FAERS Safety Report 23693892 (Version 13)
Quarter: 2025Q2

REPORT INFORMATION
  Report Type: Spontaneous
  Country: GB (occurrence: GB)
  Receive Date: 20240401
  Receipt Date: 20250605
  Transmission Date: 20250716
  Serious: Yes (Death, Other)
  Sender: SANDOZ
  Company Number: GB-ROCHE-2729221

PATIENT
  Age: 72 Year
  Sex: Female
  Weight: 62 kg

DRUGS (1080)
  1. BENDAMUSTINE [Suspect]
     Active Substance: BENDAMUSTINE
     Indication: Product used for unknown indication
     Route: 065
  2. BENDAMUSTINE [Suspect]
     Active Substance: BENDAMUSTINE
     Indication: Prophylaxis
     Route: 065
  3. BENDAMUSTINE [Suspect]
     Active Substance: BENDAMUSTINE
     Route: 065
  4. BENDAMUSTINE [Suspect]
     Active Substance: BENDAMUSTINE
     Route: 065
  5. BENDAMUSTINE [Suspect]
     Active Substance: BENDAMUSTINE
     Route: 065
  6. BENDAMUSTINE [Suspect]
     Active Substance: BENDAMUSTINE
     Route: 065
  7. BENDAMUSTINE [Suspect]
     Active Substance: BENDAMUSTINE
     Route: 065
  8. BENDAMUSTINE [Suspect]
     Active Substance: BENDAMUSTINE
     Route: 065
  9. BENDAMUSTINE [Suspect]
     Active Substance: BENDAMUSTINE
     Route: 065
  10. BENDAMUSTINE [Suspect]
     Active Substance: BENDAMUSTINE
     Route: 065
  11. BENDAMUSTINE [Suspect]
     Active Substance: BENDAMUSTINE
     Route: 065
  12. BENDAMUSTINE [Suspect]
     Active Substance: BENDAMUSTINE
     Route: 065
  13. BENDAMUSTINE [Suspect]
     Active Substance: BENDAMUSTINE
     Route: 065
  14. BENDAMUSTINE [Suspect]
     Active Substance: BENDAMUSTINE
     Route: 065
  15. BENDAMUSTINE [Suspect]
     Active Substance: BENDAMUSTINE
     Route: 065
  16. BENDAMUSTINE [Suspect]
     Active Substance: BENDAMUSTINE
     Route: 065
  17. BENDAMUSTINE [Suspect]
     Active Substance: BENDAMUSTINE
     Route: 065
  18. BENDAMUSTINE [Suspect]
     Active Substance: BENDAMUSTINE
     Route: 065
  19. CYCLOPHOSPHAMIDE [Suspect]
     Active Substance: CYCLOPHOSPHAMIDE
     Indication: Diffuse large B-cell lymphoma
     Dosage: 1260 MG/M2, EVERY 3 WEEK, TOTAL VOLUME PRIOR AE 313 ML, DATE OF MOSTE RECENT DOSE PRIOR TO FIRST EPI
     Route: 042
     Dates: start: 20201124
  20. CYCLOPHOSPHAMIDE [Suspect]
     Active Substance: CYCLOPHOSPHAMIDE
     Route: 065
     Dates: start: 20201124
  21. CYCLOPHOSPHAMIDE [Suspect]
     Active Substance: CYCLOPHOSPHAMIDE
     Route: 065
     Dates: start: 20201124
  22. CYCLOPHOSPHAMIDE [Suspect]
     Active Substance: CYCLOPHOSPHAMIDE
     Route: 042
     Dates: start: 20201124
  23. CYCLOPHOSPHAMIDE [Suspect]
     Active Substance: CYCLOPHOSPHAMIDE
     Route: 042
  24. CYCLOPHOSPHAMIDE [Suspect]
     Active Substance: CYCLOPHOSPHAMIDE
     Route: 042
  25. CYCLOPHOSPHAMIDE [Suspect]
     Active Substance: CYCLOPHOSPHAMIDE
     Route: 042
  26. CYCLOPHOSPHAMIDE [Suspect]
     Active Substance: CYCLOPHOSPHAMIDE
     Route: 050
  27. CYCLOPHOSPHAMIDE [Suspect]
     Active Substance: CYCLOPHOSPHAMIDE
     Route: 042
  28. CYCLOPHOSPHAMIDE [Suspect]
     Active Substance: CYCLOPHOSPHAMIDE
     Route: 042
  29. CYCLOPHOSPHAMIDE [Suspect]
     Active Substance: CYCLOPHOSPHAMIDE
     Route: 050
  30. CYCLOPHOSPHAMIDE [Suspect]
     Active Substance: CYCLOPHOSPHAMIDE
     Route: 042
  31. CYCLOPHOSPHAMIDE [Suspect]
     Active Substance: CYCLOPHOSPHAMIDE
     Route: 042
  32. CYCLOPHOSPHAMIDE [Suspect]
     Active Substance: CYCLOPHOSPHAMIDE
     Route: 042
  33. CYCLOPHOSPHAMIDE [Suspect]
     Active Substance: CYCLOPHOSPHAMIDE
     Route: 042
  34. CYCLOPHOSPHAMIDE [Suspect]
     Active Substance: CYCLOPHOSPHAMIDE
     Route: 042
     Dates: start: 20201124
  35. CYCLOPHOSPHAMIDE [Suspect]
     Active Substance: CYCLOPHOSPHAMIDE
     Route: 042
  36. CYCLOPHOSPHAMIDE [Suspect]
     Active Substance: CYCLOPHOSPHAMIDE
     Route: 050
  37. CYCLOPHOSPHAMIDE [Suspect]
     Active Substance: CYCLOPHOSPHAMIDE
     Route: 065
  38. CYCLOPHOSPHAMIDE [Suspect]
     Active Substance: CYCLOPHOSPHAMIDE
     Route: 065
  39. CYCLOPHOSPHAMIDE [Suspect]
     Active Substance: CYCLOPHOSPHAMIDE
     Route: 065
  40. DOXORUBICIN HYDROCHLORIDE [Suspect]
     Active Substance: DOXORUBICIN HYDROCHLORIDE
     Route: 065
     Dates: start: 20201124
  41. DOXORUBICIN HYDROCHLORIDE [Suspect]
     Active Substance: DOXORUBICIN HYDROCHLORIDE
     Indication: Diffuse large B-cell lymphoma
     Dosage: 50 MILLIGRAM/SQ. METER, 3XW (50 MG/M2, TIW (DATE OF MOST RECENT DOSE PRIOR TO FIRST EPISODE OF NEUTR
     Route: 050
     Dates: start: 20201124
  42. DOXORUBICIN HYDROCHLORIDE [Suspect]
     Active Substance: DOXORUBICIN HYDROCHLORIDE
     Route: 065
     Dates: start: 20201124
  43. DOXORUBICIN HYDROCHLORIDE [Suspect]
     Active Substance: DOXORUBICIN HYDROCHLORIDE
     Route: 065
     Dates: start: 20201124
  44. DOXORUBICIN HYDROCHLORIDE [Suspect]
     Active Substance: DOXORUBICIN HYDROCHLORIDE
     Route: 065
     Dates: start: 20201124
  45. DOXORUBICIN HYDROCHLORIDE [Suspect]
     Active Substance: DOXORUBICIN HYDROCHLORIDE
     Route: 065
     Dates: start: 20201124
  46. DOXORUBICIN HYDROCHLORIDE [Suspect]
     Active Substance: DOXORUBICIN HYDROCHLORIDE
     Route: 065
     Dates: start: 20201124
  47. DOXORUBICIN HYDROCHLORIDE [Suspect]
     Active Substance: DOXORUBICIN HYDROCHLORIDE
     Route: 065
     Dates: start: 20201124
  48. DOXORUBICIN HYDROCHLORIDE [Suspect]
     Active Substance: DOXORUBICIN HYDROCHLORIDE
     Route: 065
     Dates: start: 20201124
  49. DOXORUBICIN HYDROCHLORIDE [Suspect]
     Active Substance: DOXORUBICIN HYDROCHLORIDE
     Route: 065
  50. DOXORUBICIN HYDROCHLORIDE [Suspect]
     Active Substance: DOXORUBICIN HYDROCHLORIDE
     Route: 042
     Dates: start: 20201124
  51. DOXORUBICIN HYDROCHLORIDE [Suspect]
     Active Substance: DOXORUBICIN HYDROCHLORIDE
     Indication: Diffuse large B-cell lymphoma
     Dosage: 80 MILLIGRAM/SQ. METER (ON DAY 1 OF EACH 21-DAY CYCLEDATE OF MOST RECENT DOSE PRIOR TO FIRST EPISODE
     Route: 042
     Dates: start: 20201124
  52. DOXORUBICIN HYDROCHLORIDE [Suspect]
     Active Substance: DOXORUBICIN HYDROCHLORIDE
     Route: 042
  53. DOXORUBICIN HYDROCHLORIDE [Suspect]
     Active Substance: DOXORUBICIN HYDROCHLORIDE
     Route: 065
  54. DOXORUBICIN HYDROCHLORIDE [Suspect]
     Active Substance: DOXORUBICIN HYDROCHLORIDE
     Route: 042
  55. DOXORUBICIN HYDROCHLORIDE [Suspect]
     Active Substance: DOXORUBICIN HYDROCHLORIDE
     Route: 042
  56. DOXORUBICIN HYDROCHLORIDE [Suspect]
     Active Substance: DOXORUBICIN HYDROCHLORIDE
     Route: 042
  57. DOXORUBICIN HYDROCHLORIDE [Suspect]
     Active Substance: DOXORUBICIN HYDROCHLORIDE
     Route: 040
  58. DOXORUBICIN HYDROCHLORIDE [Suspect]
     Active Substance: DOXORUBICIN HYDROCHLORIDE
     Route: 042
  59. DOXORUBICIN HYDROCHLORIDE [Suspect]
     Active Substance: DOXORUBICIN HYDROCHLORIDE
     Route: 042
  60. DOXORUBICIN HYDROCHLORIDE [Suspect]
     Active Substance: DOXORUBICIN HYDROCHLORIDE
     Route: 040
  61. DOXORUBICIN HYDROCHLORIDE [Suspect]
     Active Substance: DOXORUBICIN HYDROCHLORIDE
     Route: 040
  62. DOXORUBICIN HYDROCHLORIDE [Suspect]
     Active Substance: DOXORUBICIN HYDROCHLORIDE
     Route: 042
  63. DOXORUBICIN HYDROCHLORIDE [Suspect]
     Active Substance: DOXORUBICIN HYDROCHLORIDE
     Route: 042
  64. DOXORUBICIN HYDROCHLORIDE [Suspect]
     Active Substance: DOXORUBICIN HYDROCHLORIDE
     Route: 042
  65. DOXORUBICIN HYDROCHLORIDE [Suspect]
     Active Substance: DOXORUBICIN HYDROCHLORIDE
     Route: 042
  66. DOXORUBICIN HYDROCHLORIDE [Suspect]
     Active Substance: DOXORUBICIN HYDROCHLORIDE
     Route: 042
  67. DOXORUBICIN HYDROCHLORIDE [Suspect]
     Active Substance: DOXORUBICIN HYDROCHLORIDE
     Route: 065
  68. DOXORUBICIN HYDROCHLORIDE [Suspect]
     Active Substance: DOXORUBICIN HYDROCHLORIDE
     Route: 042
  69. DOXORUBICIN HYDROCHLORIDE [Suspect]
     Active Substance: DOXORUBICIN HYDROCHLORIDE
     Route: 065
  70. DOXORUBICIN HYDROCHLORIDE [Suspect]
     Active Substance: DOXORUBICIN HYDROCHLORIDE
     Route: 040
  71. DOXORUBICIN HYDROCHLORIDE [Suspect]
     Active Substance: DOXORUBICIN HYDROCHLORIDE
     Route: 042
  72. DOXORUBICIN HYDROCHLORIDE [Suspect]
     Active Substance: DOXORUBICIN HYDROCHLORIDE
     Route: 042
  73. DOXORUBICIN HYDROCHLORIDE [Suspect]
     Active Substance: DOXORUBICIN HYDROCHLORIDE
     Route: 042
  74. DOXORUBICIN HYDROCHLORIDE [Suspect]
     Active Substance: DOXORUBICIN HYDROCHLORIDE
     Route: 065
  75. DOXORUBICIN HYDROCHLORIDE [Suspect]
     Active Substance: DOXORUBICIN HYDROCHLORIDE
     Route: 040
  76. DOXORUBICIN HYDROCHLORIDE [Suspect]
     Active Substance: DOXORUBICIN HYDROCHLORIDE
     Route: 065
     Dates: start: 20201124
  77. GLOFITAMAB [Suspect]
     Active Substance: GLOFITAMAB
     Route: 065
     Dates: start: 20201222
  78. GLOFITAMAB [Suspect]
     Active Substance: GLOFITAMAB
     Route: 065
     Dates: start: 20201222
  79. GLOFITAMAB [Suspect]
     Active Substance: GLOFITAMAB
     Dosage: 2.5 MG EVERY 3 WEEKS
     Route: 065
  80. GLOFITAMAB [Suspect]
     Active Substance: GLOFITAMAB
     Dosage: 2.5 MG/M2, 2/WEEK
     Route: 065
  81. GLOFITAMAB [Suspect]
     Active Substance: GLOFITAMAB
     Route: 065
     Dates: start: 20201222
  82. GLOFITAMAB [Suspect]
     Active Substance: GLOFITAMAB
     Indication: Diffuse large B-cell lymphoma
     Route: 042
     Dates: start: 20201222
  83. GLOFITAMAB [Suspect]
     Active Substance: GLOFITAMAB
     Route: 040
  84. GLOFITAMAB [Suspect]
     Active Substance: GLOFITAMAB
     Route: 065
  85. GLOFITAMAB [Suspect]
     Active Substance: GLOFITAMAB
     Route: 065
  86. GLOFITAMAB [Suspect]
     Active Substance: GLOFITAMAB
     Route: 065
  87. GLOFITAMAB [Suspect]
     Active Substance: GLOFITAMAB
     Route: 050
  88. GLOFITAMAB [Suspect]
     Active Substance: GLOFITAMAB
     Route: 065
  89. GLOFITAMAB [Suspect]
     Active Substance: GLOFITAMAB
     Route: 065
  90. GLOFITAMAB [Suspect]
     Active Substance: GLOFITAMAB
     Route: 065
  91. GLOFITAMAB [Suspect]
     Active Substance: GLOFITAMAB
     Route: 065
  92. GLOFITAMAB [Suspect]
     Active Substance: GLOFITAMAB
     Route: 065
  93. GLOFITAMAB [Suspect]
     Active Substance: GLOFITAMAB
     Route: 065
  94. GLOFITAMAB [Suspect]
     Active Substance: GLOFITAMAB
     Route: 065
  95. GLOFITAMAB [Suspect]
     Active Substance: GLOFITAMAB
     Route: 065
  96. GLOFITAMAB [Suspect]
     Active Substance: GLOFITAMAB
     Route: 065
     Dates: start: 20201222
  97. GLOFITAMAB [Suspect]
     Active Substance: GLOFITAMAB
     Route: 065
     Dates: start: 20201222
  98. GLOFITAMAB [Suspect]
     Active Substance: GLOFITAMAB
     Route: 050
     Dates: start: 20201222
  99. GLOFITAMAB [Suspect]
     Active Substance: GLOFITAMAB
     Route: 040
  100. GLOFITAMAB [Suspect]
     Active Substance: GLOFITAMAB
     Route: 050
  101. GLOFITAMAB [Suspect]
     Active Substance: GLOFITAMAB
     Route: 050
  102. GLOFITAMAB [Suspect]
     Active Substance: GLOFITAMAB
     Route: 065
  103. GLOFITAMAB [Suspect]
     Active Substance: GLOFITAMAB
     Route: 065
  104. GLOFITAMAB [Suspect]
     Active Substance: GLOFITAMAB
     Route: 065
  105. GLOFITAMAB [Suspect]
     Active Substance: GLOFITAMAB
     Route: 065
  106. GLOFITAMAB [Suspect]
     Active Substance: GLOFITAMAB
     Route: 065
  107. GLOFITAMAB [Suspect]
     Active Substance: GLOFITAMAB
     Route: 065
  108. GLOFITAMAB [Suspect]
     Active Substance: GLOFITAMAB
     Route: 065
  109. GLOFITAMAB [Suspect]
     Active Substance: GLOFITAMAB
     Route: 065
  110. GLOFITAMAB [Suspect]
     Active Substance: GLOFITAMAB
     Route: 065
  111. GLOFITAMAB [Suspect]
     Active Substance: GLOFITAMAB
     Route: 065
  112. GLOFITAMAB [Suspect]
     Active Substance: GLOFITAMAB
     Route: 040
  113. GLOFITAMAB [Suspect]
     Active Substance: GLOFITAMAB
     Route: 042
  114. GLOFITAMAB [Suspect]
     Active Substance: GLOFITAMAB
     Route: 050
  115. GLOFITAMAB [Suspect]
     Active Substance: GLOFITAMAB
     Route: 065
  116. GLOFITAMAB [Suspect]
     Active Substance: GLOFITAMAB
     Route: 065
  117. GLOFITAMAB [Suspect]
     Active Substance: GLOFITAMAB
     Route: 065
  118. GLOFITAMAB [Suspect]
     Active Substance: GLOFITAMAB
     Route: 065
  119. GLOFITAMAB [Suspect]
     Active Substance: GLOFITAMAB
     Route: 065
  120. GLOFITAMAB [Suspect]
     Active Substance: GLOFITAMAB
     Route: 065
  121. GLOFITAMAB [Suspect]
     Active Substance: GLOFITAMAB
     Route: 065
  122. GLOFITAMAB [Suspect]
     Active Substance: GLOFITAMAB
     Route: 065
  123. GLOFITAMAB [Suspect]
     Active Substance: GLOFITAMAB
     Route: 065
  124. GLOFITAMAB [Suspect]
     Active Substance: GLOFITAMAB
     Route: 065
  125. GLOFITAMAB [Suspect]
     Active Substance: GLOFITAMAB
     Dosage: 2.5 MG EVERY 3 WEEKS / THE MOST RECENT DOSE OF RO7082859 (10 MG) WAS ADMINISTERED ON 30/DEC/2020 AT
     Route: 042
     Dates: start: 20201222
  126. GLOFITAMAB [Suspect]
     Active Substance: GLOFITAMAB
     Dosage: 2.5 MILLIGRAM, Q3W (THE MOST RECENT DOSE OF RO7082859 (10 MG) WAS ADMINISTERED ON 30/DEC/2020
     Route: 065
     Dates: start: 20201222
  127. GLOFITAMAB [Suspect]
     Active Substance: GLOFITAMAB
     Route: 065
  128. GLOFITAMAB [Suspect]
     Active Substance: GLOFITAMAB
     Route: 065
  129. GLOFITAMAB [Suspect]
     Active Substance: GLOFITAMAB
     Route: 065
  130. GLOFITAMAB [Suspect]
     Active Substance: GLOFITAMAB
     Route: 065
     Dates: start: 20201222
  131. GLOFITAMAB [Suspect]
     Active Substance: GLOFITAMAB
     Route: 065
     Dates: start: 20201222
  132. GLOFITAMAB [Suspect]
     Active Substance: GLOFITAMAB
     Route: 065
  133. GLOFITAMAB [Suspect]
     Active Substance: GLOFITAMAB
     Route: 042
     Dates: start: 20201222
  134. GLOFITAMAB [Suspect]
     Active Substance: GLOFITAMAB
     Route: 065
     Dates: start: 20201222
  135. GLOFITAMAB [Suspect]
     Active Substance: GLOFITAMAB
     Dosage: 2.5 MG/M2, 3/WEEK
     Route: 065
  136. GLOFITAMAB [Suspect]
     Active Substance: GLOFITAMAB
     Dosage: 2.5 MG/M2, 3/WEEK
     Route: 065
  137. GLOFITAMAB [Suspect]
     Active Substance: GLOFITAMAB
     Route: 040
  138. GLOFITAMAB [Suspect]
     Active Substance: GLOFITAMAB
     Route: 065
  139. GLOFITAMAB [Suspect]
     Active Substance: GLOFITAMAB
     Route: 065
  140. GLOFITAMAB [Suspect]
     Active Substance: GLOFITAMAB
     Route: 065
  141. GLOFITAMAB [Suspect]
     Active Substance: GLOFITAMAB
     Route: 065
  142. GLOFITAMAB [Suspect]
     Active Substance: GLOFITAMAB
     Route: 065
  143. GLOFITAMAB [Suspect]
     Active Substance: GLOFITAMAB
     Route: 065
  144. GLOFITAMAB [Suspect]
     Active Substance: GLOFITAMAB
     Route: 065
  145. GLOFITAMAB [Suspect]
     Active Substance: GLOFITAMAB
     Route: 050
  146. GLOFITAMAB [Suspect]
     Active Substance: GLOFITAMAB
     Route: 065
  147. GLOFITAMAB [Suspect]
     Active Substance: GLOFITAMAB
     Route: 065
  148. GLOFITAMAB [Suspect]
     Active Substance: GLOFITAMAB
     Route: 065
  149. GLOFITAMAB [Suspect]
     Active Substance: GLOFITAMAB
     Route: 065
  150. GLOFITAMAB [Suspect]
     Active Substance: GLOFITAMAB
     Route: 065
  151. GLOFITAMAB [Suspect]
     Active Substance: GLOFITAMAB
     Route: 065
  152. GLOFITAMAB [Suspect]
     Active Substance: GLOFITAMAB
     Route: 065
  153. GLOFITAMAB [Suspect]
     Active Substance: GLOFITAMAB
     Route: 040
  154. GLOFITAMAB [Suspect]
     Active Substance: GLOFITAMAB
     Route: 065
  155. GLOFITAMAB [Suspect]
     Active Substance: GLOFITAMAB
     Route: 065
  156. GLOFITAMAB [Suspect]
     Active Substance: GLOFITAMAB
     Route: 065
  157. GLOFITAMAB [Suspect]
     Active Substance: GLOFITAMAB
     Route: 065
     Dates: start: 20210323, end: 20210323
  158. GLOFITAMAB [Suspect]
     Active Substance: GLOFITAMAB
     Route: 065
     Dates: start: 20210309
  159. GLOFITAMAB [Suspect]
     Active Substance: GLOFITAMAB
     Route: 065
     Dates: start: 20201230, end: 20201230
  160. GLOFITAMAB [Suspect]
     Active Substance: GLOFITAMAB
     Route: 065
     Dates: start: 20210209, end: 20210209
  161. GLOFITAMAB [Suspect]
     Active Substance: GLOFITAMAB
     Route: 065
     Dates: start: 20210119, end: 20210119
  162. GLOFITAMAB [Suspect]
     Active Substance: GLOFITAMAB
     Route: 065
     Dates: start: 20210302, end: 20210302
  163. GLOFITAMAB [Suspect]
     Active Substance: GLOFITAMAB
     Route: 065
     Dates: start: 20201222
  164. PREDNISOLONE [Suspect]
     Active Substance: PREDNISOLONE
     Route: 065
  165. PREDNISOLONE [Suspect]
     Active Substance: PREDNISOLONE
     Route: 065
  166. PREDNISOLONE [Suspect]
     Active Substance: PREDNISOLONE
     Route: 065
     Dates: end: 20201122
  167. PREDNISOLONE [Suspect]
     Active Substance: PREDNISOLONE
     Route: 065
  168. PREDNISOLONE [Suspect]
     Active Substance: PREDNISOLONE
     Route: 065
  169. PREDNISOLONE [Suspect]
     Active Substance: PREDNISOLONE
     Route: 065
  170. PREDNISOLONE [Suspect]
     Active Substance: PREDNISOLONE
     Route: 065
  171. PREDNISOLONE [Suspect]
     Active Substance: PREDNISOLONE
     Route: 048
     Dates: start: 20201118, end: 20201122
  172. PREDNISOLONE [Suspect]
     Active Substance: PREDNISOLONE
     Route: 048
     Dates: start: 20210109
  173. PREDNISOLONE [Suspect]
     Active Substance: PREDNISOLONE
     Route: 048
     Dates: start: 20210309
  174. PREDNISOLONE [Suspect]
     Active Substance: PREDNISOLONE
     Route: 065
     Dates: start: 20201124
  175. PREDNISOLONE [Suspect]
     Active Substance: PREDNISOLONE
     Route: 048
     Dates: start: 20201124
  176. PREDNISOLONE [Suspect]
     Active Substance: PREDNISOLONE
     Indication: Diffuse large B-cell lymphoma
     Route: 048
     Dates: start: 20201124
  177. PREDNISOLONE [Suspect]
     Active Substance: PREDNISOLONE
     Route: 048
     Dates: start: 20201124
  178. PREDNISOLONE [Suspect]
     Active Substance: PREDNISOLONE
     Route: 065
     Dates: start: 20201124
  179. PREDNISOLONE [Suspect]
     Active Substance: PREDNISOLONE
     Route: 048
     Dates: start: 20201124
  180. PREDNISOLONE [Suspect]
     Active Substance: PREDNISOLONE
     Route: 050
     Dates: start: 20201124
  181. PREDNISOLONE [Suspect]
     Active Substance: PREDNISOLONE
     Route: 048
     Dates: start: 20201215
  182. PREDNISOLONE [Suspect]
     Active Substance: PREDNISOLONE
     Route: 048
     Dates: start: 20210218, end: 20210218
  183. PREDNISOLONE [Suspect]
     Active Substance: PREDNISOLONE
     Route: 048
     Dates: start: 20201128
  184. PREDNISOLONE [Suspect]
     Active Substance: PREDNISOLONE
     Route: 048
     Dates: start: 20201124
  185. PREDNISOLONE [Suspect]
     Active Substance: PREDNISOLONE
     Route: 065
     Dates: start: 20201124
  186. PREDNISOLONE [Suspect]
     Active Substance: PREDNISOLONE
     Route: 065
     Dates: start: 20201118, end: 20201122
  187. PREDNISOLONE [Suspect]
     Active Substance: PREDNISOLONE
     Route: 065
  188. PREDNISOLONE [Suspect]
     Active Substance: PREDNISOLONE
     Route: 065
     Dates: start: 20201124
  189. PREDNISOLONE [Suspect]
     Active Substance: PREDNISOLONE
     Route: 048
     Dates: start: 20201124
  190. PREDNISOLONE [Suspect]
     Active Substance: PREDNISOLONE
     Route: 048
     Dates: start: 20201124
  191. PREDNISOLONE [Suspect]
     Active Substance: PREDNISOLONE
     Route: 065
     Dates: start: 20201124
  192. PREDNISOLONE [Suspect]
     Active Substance: PREDNISOLONE
     Route: 048
     Dates: start: 20201118, end: 20201122
  193. PREDNISOLONE [Suspect]
     Active Substance: PREDNISOLONE
     Route: 048
     Dates: start: 20201118, end: 20201122
  194. PREDNISOLONE [Suspect]
     Active Substance: PREDNISOLONE
     Route: 048
     Dates: start: 20201118, end: 20201122
  195. PREDNISOLONE [Suspect]
     Active Substance: PREDNISOLONE
     Route: 048
     Dates: start: 20201118, end: 20201122
  196. PREDNISOLONE [Suspect]
     Active Substance: PREDNISOLONE
     Route: 048
     Dates: start: 20201122
  197. PREDNISOLONE [Suspect]
     Active Substance: PREDNISOLONE
     Route: 048
     Dates: start: 20201124
  198. PREDNISOLONE [Suspect]
     Active Substance: PREDNISOLONE
     Route: 048
  199. PREDNISOLONE [Suspect]
     Active Substance: PREDNISOLONE
     Route: 065
     Dates: start: 20201118, end: 20201122
  200. PREDNISOLONE [Suspect]
     Active Substance: PREDNISOLONE
     Route: 065
     Dates: start: 20201118, end: 20201122
  201. PREDNISOLONE [Suspect]
     Active Substance: PREDNISOLONE
     Route: 065
     Dates: start: 20201124
  202. PREDNISOLONE [Suspect]
     Active Substance: PREDNISOLONE
     Route: 065
     Dates: start: 20201124
  203. PREDNISOLONE [Suspect]
     Active Substance: PREDNISOLONE
     Route: 065
     Dates: start: 20201124
  204. PREDNISOLONE [Suspect]
     Active Substance: PREDNISOLONE
     Route: 065
  205. PREDNISOLONE [Suspect]
     Active Substance: PREDNISOLONE
     Route: 065
  206. PREDNISOLONE [Suspect]
     Active Substance: PREDNISOLONE
     Route: 065
  207. PREDNISOLONE [Suspect]
     Active Substance: PREDNISOLONE
     Route: 065
  208. PREDNISOLONE [Suspect]
     Active Substance: PREDNISOLONE
     Route: 065
  209. PREDNISOLONE [Suspect]
     Active Substance: PREDNISOLONE
     Route: 065
  210. PREDNISOLONE [Suspect]
     Active Substance: PREDNISOLONE
     Route: 065
  211. PREDNISOLONE [Suspect]
     Active Substance: PREDNISOLONE
     Route: 065
  212. PREDNISOLONE [Suspect]
     Active Substance: PREDNISOLONE
     Route: 065
  213. PREDNISOLONE [Suspect]
     Active Substance: PREDNISOLONE
     Route: 048
     Dates: start: 20201118, end: 20201122
  214. PREDNISOLONE [Suspect]
     Active Substance: PREDNISOLONE
     Route: 065
     Dates: start: 20201118, end: 20201122
  215. PREDNISOLONE [Suspect]
     Active Substance: PREDNISOLONE
     Route: 065
     Dates: start: 20201118
  216. PREDNISOLONE [Suspect]
     Active Substance: PREDNISOLONE
     Route: 065
     Dates: start: 20201118
  217. PREDNISOLONE [Suspect]
     Active Substance: PREDNISOLONE
     Route: 065
  218. PREDNISOLONE [Suspect]
     Active Substance: PREDNISOLONE
     Route: 048
     Dates: start: 20201118, end: 20201122
  219. PREDNISOLONE [Suspect]
     Active Substance: PREDNISOLONE
     Route: 065
     Dates: start: 20201118, end: 20201122
  220. PREDNISOLONE [Suspect]
     Active Substance: PREDNISOLONE
     Route: 065
     Dates: start: 20210220
  221. RITUXIMAB [Suspect]
     Active Substance: RITUXIMAB
     Dosage: 9 ML, EVERY 1 WEEK, 3 MILLILITER, 3XW, SOLUTION FOR INFUSION
     Route: 065
     Dates: start: 20201124
  222. RITUXIMAB [Suspect]
     Active Substance: RITUXIMAB
     Route: 065
     Dates: start: 20201124
  223. RITUXIMAB [Suspect]
     Active Substance: RITUXIMAB
     Route: 065
  224. RITUXIMAB [Suspect]
     Active Substance: RITUXIMAB
     Route: 065
  225. RITUXIMAB [Suspect]
     Active Substance: RITUXIMAB
     Route: 065
  226. RITUXIMAB [Suspect]
     Active Substance: RITUXIMAB
     Route: 065
  227. RITUXIMAB [Suspect]
     Active Substance: RITUXIMAB
     Route: 050
  228. RITUXIMAB [Suspect]
     Active Substance: RITUXIMAB
     Route: 065
  229. RITUXIMAB [Suspect]
     Active Substance: RITUXIMAB
     Route: 065
  230. RITUXIMAB [Suspect]
     Active Substance: RITUXIMAB
     Route: 065
  231. RITUXIMAB [Suspect]
     Active Substance: RITUXIMAB
     Route: 065
  232. RITUXIMAB [Suspect]
     Active Substance: RITUXIMAB
     Route: 065
  233. RITUXIMAB [Suspect]
     Active Substance: RITUXIMAB
     Route: 050
  234. RITUXIMAB [Suspect]
     Active Substance: RITUXIMAB
     Indication: Product used for unknown indication
     Dosage: 3 ML, TIW
     Route: 050
     Dates: start: 20210216, end: 20210216
  235. RITUXIMAB [Suspect]
     Active Substance: RITUXIMAB
     Dosage: 600 MG, TIW
     Route: 042
     Dates: start: 20210105, end: 20210216
  236. RITUXIMAB [Suspect]
     Active Substance: RITUXIMAB
     Dosage: 9 MILLIGRAM/SQ. METER (9 MG/M2, TOTAL  VOLUME PRIOR AE 560 MLDATE OF MOST  RECENT DOSE PRIOR TO FIRS
     Route: 042
     Dates: start: 20201124
  237. RITUXIMAB [Suspect]
     Active Substance: RITUXIMAB
     Indication: Diffuse large B-cell lymphoma
     Route: 065
     Dates: start: 20201124
  238. RITUXIMAB [Suspect]
     Active Substance: RITUXIMAB
     Route: 042
     Dates: start: 20201221, end: 20201221
  239. RITUXIMAB [Suspect]
     Active Substance: RITUXIMAB
     Route: 065
  240. RITUXIMAB [Suspect]
     Active Substance: RITUXIMAB
     Route: 050
  241. RITUXIMAB [Suspect]
     Active Substance: RITUXIMAB
     Route: 065
  242. RITUXIMAB [Suspect]
     Active Substance: RITUXIMAB
     Route: 065
  243. RITUXIMAB [Suspect]
     Active Substance: RITUXIMAB
     Dosage: 9 ML, EVERY 1 WEEK, 3 MILLILITER, 3XW, SOLUTION FOR INFUSION
     Route: 065
     Dates: start: 20210216, end: 20210216
  244. RITUXIMAB [Suspect]
     Active Substance: RITUXIMAB
     Route: 065
     Dates: start: 20210216, end: 20210216
  245. RITUXIMAB [Suspect]
     Active Substance: RITUXIMAB
     Route: 065
     Dates: start: 20210216, end: 20210216
  246. RITUXIMAB [Suspect]
     Active Substance: RITUXIMAB
     Route: 065
  247. RITUXIMAB [Suspect]
     Active Substance: RITUXIMAB
     Route: 050
  248. RITUXIMAB [Suspect]
     Active Substance: RITUXIMAB
     Dosage: 3 ML, TIW, TIME INTERVAL: 0.33 WK
     Route: 050
     Dates: start: 20201221, end: 20201221
  249. RITUXIMAB [Suspect]
     Active Substance: RITUXIMAB
     Route: 065
     Dates: start: 20201221, end: 20201221
  250. RITUXIMAB [Suspect]
     Active Substance: RITUXIMAB
     Route: 065
     Dates: start: 20201124
  251. RITUXIMAB [Suspect]
     Active Substance: RITUXIMAB
     Route: 065
     Dates: start: 20201221, end: 20201221
  252. RITUXIMAB [Suspect]
     Active Substance: RITUXIMAB
     Route: 050
  253. RITUXIMAB [Suspect]
     Active Substance: RITUXIMAB
     Route: 065
  254. RITUXIMAB [Suspect]
     Active Substance: RITUXIMAB
     Route: 050
  255. RITUXIMAB [Suspect]
     Active Substance: RITUXIMAB
     Route: 065
     Dates: start: 20210126
  256. RITUXIMAB [Suspect]
     Active Substance: RITUXIMAB
     Route: 065
     Dates: start: 20201215
  257. RITUXIMAB [Suspect]
     Active Substance: RITUXIMAB
     Route: 065
     Dates: start: 20210302
  258. RITUXIMAB [Suspect]
     Active Substance: RITUXIMAB
     Route: 065
     Dates: start: 20210209
  259. RITUXIMAB [Suspect]
     Active Substance: RITUXIMAB
     Route: 065
     Dates: start: 20210216
  260. RITUXIMAB [Suspect]
     Active Substance: RITUXIMAB
     Route: 065
     Dates: start: 20201222
  261. RITUXIMAB [Suspect]
     Active Substance: RITUXIMAB
     Route: 065
     Dates: start: 20210105, end: 20210216
  262. VALGANCICLOVIR [Suspect]
     Active Substance: VALGANCICLOVIR
     Route: 065
     Dates: start: 20210513
  263. VALGANCICLOVIR [Suspect]
     Active Substance: VALGANCICLOVIR
     Route: 065
     Dates: start: 20210513
  264. VALGANCICLOVIR [Suspect]
     Active Substance: VALGANCICLOVIR
     Indication: Cytomegalovirus viraemia
     Route: 050
     Dates: start: 20210426, end: 20210513
  265. VALGANCICLOVIR [Suspect]
     Active Substance: VALGANCICLOVIR
     Route: 065
     Dates: start: 20210426, end: 20210513
  266. VALGANCICLOVIR [Suspect]
     Active Substance: VALGANCICLOVIR
     Route: 065
     Dates: start: 20210426, end: 20210513
  267. VALGANCICLOVIR [Suspect]
     Active Substance: VALGANCICLOVIR
     Indication: Product used for unknown indication
     Route: 065
     Dates: start: 20210426, end: 20210513
  268. VALGANCICLOVIR [Suspect]
     Active Substance: VALGANCICLOVIR
     Route: 065
     Dates: start: 20210513
  269. VALGANCICLOVIR [Suspect]
     Active Substance: VALGANCICLOVIR
     Route: 065
     Dates: start: 20210518
  270. VALGANCICLOVIR [Suspect]
     Active Substance: VALGANCICLOVIR
     Route: 065
     Dates: start: 20210518
  271. VALGANCICLOVIR [Suspect]
     Active Substance: VALGANCICLOVIR
     Route: 065
     Dates: start: 20210426, end: 20210513
  272. VALGANCICLOVIR [Suspect]
     Active Substance: VALGANCICLOVIR
     Route: 065
     Dates: start: 20210426, end: 20210513
  273. VALGANCICLOVIR [Suspect]
     Active Substance: VALGANCICLOVIR
     Route: 065
     Dates: start: 20210426, end: 20210513
  274. VALGANCICLOVIR [Suspect]
     Active Substance: VALGANCICLOVIR
     Route: 065
     Dates: end: 20210513
  275. VINCRISTINE [Suspect]
     Active Substance: VINCRISTINE
     Dosage: 2 MG/M2, EVERY 3 WEEKS
     Route: 065
     Dates: start: 20201124
  276. VINCRISTINE [Suspect]
     Active Substance: VINCRISTINE
     Dosage: TOTAL VOLUME: 50 ML, DATE OF MOST RECENT DOSE PRIOR TO FIRST EPISODE OF NEUTROPENIA 24/NOV/2020, S..
     Route: 065
     Dates: start: 20201124
  277. VINCRISTINE [Suspect]
     Active Substance: VINCRISTINE
     Indication: Diffuse large B-cell lymphoma
     Route: 042
     Dates: start: 20201124
  278. VINCRISTINE [Suspect]
     Active Substance: VINCRISTINE
     Route: 040
     Dates: start: 20201121
  279. VINCRISTINE [Suspect]
     Active Substance: VINCRISTINE
     Route: 040
     Dates: start: 20201121
  280. VINCRISTINE [Suspect]
     Active Substance: VINCRISTINE
     Route: 042
     Dates: start: 20201121
  281. VINCRISTINE [Suspect]
     Active Substance: VINCRISTINE
     Route: 040
     Dates: start: 20201124
  282. VINCRISTINE [Suspect]
     Active Substance: VINCRISTINE
     Route: 042
     Dates: start: 20201124
  283. VINCRISTINE [Suspect]
     Active Substance: VINCRISTINE
     Route: 040
     Dates: start: 20201124
  284. VINCRISTINE [Suspect]
     Active Substance: VINCRISTINE
     Route: 042
     Dates: start: 20201124
  285. VINCRISTINE [Suspect]
     Active Substance: VINCRISTINE
     Route: 042
     Dates: start: 20201124
  286. VINCRISTINE [Suspect]
     Active Substance: VINCRISTINE
     Route: 040
     Dates: start: 20201124
  287. VINCRISTINE [Suspect]
     Active Substance: VINCRISTINE
     Route: 065
  288. VINCRISTINE [Suspect]
     Active Substance: VINCRISTINE
     Route: 065
  289. VINCRISTINE [Suspect]
     Active Substance: VINCRISTINE
     Dosage: 9 MILLIGRAM/SQ. METER, 3XW (9 MG/M2, THREE TIMES IN WEEK, TOTAL VOLUME: 50 ML DATE OF MOST RECENT DO
     Route: 040
     Dates: start: 20201124
  290. VINCRISTINE [Suspect]
     Active Substance: VINCRISTINE
     Dosage: TOTAL VOLUME: 50 MLDATE OF MOST RECENT DOSE PRIOR TO FIRST EPISODE OF NEUTROPENIA 24/NOV/2020, S...
     Route: 065
     Dates: start: 20201124
  291. VINCRISTINE [Suspect]
     Active Substance: VINCRISTINE
     Route: 040
     Dates: start: 20201124
  292. VINCRISTINE [Suspect]
     Active Substance: VINCRISTINE
     Route: 065
     Dates: start: 20201124
  293. VINCRISTINE [Suspect]
     Active Substance: VINCRISTINE
     Route: 065
     Dates: start: 20201124
  294. VINCRISTINE [Suspect]
     Active Substance: VINCRISTINE
     Route: 042
     Dates: start: 20201124
  295. VINCRISTINE [Suspect]
     Active Substance: VINCRISTINE
     Route: 040
     Dates: start: 20201124
  296. VINCRISTINE [Suspect]
     Active Substance: VINCRISTINE
     Route: 040
     Dates: start: 20201124
  297. VINCRISTINE [Suspect]
     Active Substance: VINCRISTINE
     Route: 040
     Dates: start: 20201124
  298. VINCRISTINE [Suspect]
     Active Substance: VINCRISTINE
     Route: 042
     Dates: start: 20201124
  299. VINCRISTINE [Suspect]
     Active Substance: VINCRISTINE
     Route: 042
     Dates: start: 20201124
  300. VINCRISTINE [Suspect]
     Active Substance: VINCRISTINE
     Route: 042
     Dates: start: 20201124
  301. VINCRISTINE [Suspect]
     Active Substance: VINCRISTINE
     Route: 042
     Dates: start: 20201124
  302. VINCRISTINE [Suspect]
     Active Substance: VINCRISTINE
     Route: 042
     Dates: start: 20201124
  303. VINCRISTINE [Suspect]
     Active Substance: VINCRISTINE
     Route: 042
     Dates: start: 20201124
  304. VINCRISTINE [Suspect]
     Active Substance: VINCRISTINE
     Route: 065
  305. VINCRISTINE [Suspect]
     Active Substance: VINCRISTINE
     Route: 065
  306. VINCRISTINE [Suspect]
     Active Substance: VINCRISTINE
     Route: 065
  307. VINCRISTINE [Suspect]
     Active Substance: VINCRISTINE
     Route: 065
  308. VINCRISTINE [Suspect]
     Active Substance: VINCRISTINE
     Route: 065
  309. VINCRISTINE [Suspect]
     Active Substance: VINCRISTINE
     Route: 065
  310. VINCRISTINE [Suspect]
     Active Substance: VINCRISTINE
     Route: 065
  311. VINCRISTINE [Suspect]
     Active Substance: VINCRISTINE
     Route: 050
  312. VINCRISTINE [Suspect]
     Active Substance: VINCRISTINE
     Route: 065
  313. VINCRISTINE [Suspect]
     Active Substance: VINCRISTINE
     Route: 065
  314. VINCRISTINE [Suspect]
     Active Substance: VINCRISTINE
     Route: 042
     Dates: start: 20201124
  315. VINCRISTINE [Suspect]
     Active Substance: VINCRISTINE
     Route: 040
     Dates: start: 20201124
  316. VINCRISTINE [Suspect]
     Active Substance: VINCRISTINE
     Route: 065
  317. VINCRISTINE [Suspect]
     Active Substance: VINCRISTINE
     Route: 065
  318. VINCRISTINE [Suspect]
     Active Substance: VINCRISTINE
     Route: 065
  319. VINCRISTINE [Suspect]
     Active Substance: VINCRISTINE
     Route: 065
  320. VINCRISTINE [Suspect]
     Active Substance: VINCRISTINE
     Route: 065
  321. VINCRISTINE [Suspect]
     Active Substance: VINCRISTINE
     Route: 065
  322. VINCRISTINE [Suspect]
     Active Substance: VINCRISTINE
     Route: 065
  323. VINCRISTINE [Suspect]
     Active Substance: VINCRISTINE
     Route: 065
  324. VINCRISTINE [Suspect]
     Active Substance: VINCRISTINE
     Route: 065
  325. VINCRISTINE [Suspect]
     Active Substance: VINCRISTINE
     Route: 065
  326. VINCRISTINE [Suspect]
     Active Substance: VINCRISTINE
     Route: 065
  327. VINCRISTINE [Suspect]
     Active Substance: VINCRISTINE
     Route: 065
  328. VINCRISTINE [Suspect]
     Active Substance: VINCRISTINE
     Route: 065
  329. VINCRISTINE [Suspect]
     Active Substance: VINCRISTINE
     Route: 065
  330. VINCRISTINE [Suspect]
     Active Substance: VINCRISTINE
     Route: 065
  331. VINCRISTINE [Suspect]
     Active Substance: VINCRISTINE
     Route: 065
  332. VINCRISTINE [Suspect]
     Active Substance: VINCRISTINE
     Route: 050
  333. VINCRISTINE [Suspect]
     Active Substance: VINCRISTINE
     Route: 065
  334. VINCRISTINE [Suspect]
     Active Substance: VINCRISTINE
     Route: 040
     Dates: start: 20201124
  335. VINCRISTINE [Suspect]
     Active Substance: VINCRISTINE
     Route: 042
     Dates: start: 20201124
  336. VINCRISTINE [Suspect]
     Active Substance: VINCRISTINE
     Route: 065
  337. VINCRISTINE [Suspect]
     Active Substance: VINCRISTINE
     Dosage: TOTAL VOLUME: 50 MLDATE OF MOST RECENT DOSE PRIOR TO FIRST EPISODE OF NEUTROPENIA 24/NOV/2020, S...
     Route: 065
     Dates: start: 20201124
  338. VINCRISTINE [Suspect]
     Active Substance: VINCRISTINE
     Route: 040
     Dates: start: 20201124
  339. VINCRISTINE [Suspect]
     Active Substance: VINCRISTINE
     Route: 042
     Dates: start: 20201124
  340. VINCRISTINE [Suspect]
     Active Substance: VINCRISTINE
     Route: 040
     Dates: start: 20201124
  341. VINCRISTINE [Suspect]
     Active Substance: VINCRISTINE
     Route: 042
     Dates: start: 20201124
  342. VINCRISTINE [Suspect]
     Active Substance: VINCRISTINE
     Route: 042
     Dates: start: 20201124
  343. VINCRISTINE [Suspect]
     Active Substance: VINCRISTINE
     Route: 050
     Dates: start: 20201124
  344. VINCRISTINE [Suspect]
     Active Substance: VINCRISTINE
     Route: 065
  345. VINCRISTINE [Suspect]
     Active Substance: VINCRISTINE
     Route: 040
     Dates: start: 20201124
  346. VINCRISTINE [Suspect]
     Active Substance: VINCRISTINE
     Route: 042
     Dates: start: 20201124
  347. VINCRISTINE [Suspect]
     Active Substance: VINCRISTINE
     Route: 065
  348. VINCRISTINE [Suspect]
     Active Substance: VINCRISTINE
     Route: 065
  349. VINCRISTINE [Suspect]
     Active Substance: VINCRISTINE
     Route: 065
  350. VINCRISTINE [Suspect]
     Active Substance: VINCRISTINE
     Route: 065
  351. VINCRISTINE [Suspect]
     Active Substance: VINCRISTINE
     Route: 065
  352. VINCRISTINE [Suspect]
     Active Substance: VINCRISTINE
     Route: 065
  353. VINCRISTINE [Suspect]
     Active Substance: VINCRISTINE
     Route: 065
  354. VINCRISTINE [Suspect]
     Active Substance: VINCRISTINE
     Route: 065
  355. VINCRISTINE [Suspect]
     Active Substance: VINCRISTINE
     Route: 065
  356. VINCRISTINE [Suspect]
     Active Substance: VINCRISTINE
     Route: 065
  357. VINCRISTINE [Suspect]
     Active Substance: VINCRISTINE
     Route: 065
  358. VINCRISTINE [Suspect]
     Active Substance: VINCRISTINE
     Route: 065
  359. VINCRISTINE [Suspect]
     Active Substance: VINCRISTINE
     Route: 065
  360. VINCRISTINE [Suspect]
     Active Substance: VINCRISTINE
     Route: 050
  361. VINCRISTINE [Suspect]
     Active Substance: VINCRISTINE
     Route: 050
  362. VINCRISTINE [Suspect]
     Active Substance: VINCRISTINE
     Route: 065
  363. VINCRISTINE [Suspect]
     Active Substance: VINCRISTINE
     Route: 065
     Dates: start: 20201121
  364. VINCRISTINE [Suspect]
     Active Substance: VINCRISTINE
     Route: 065
     Dates: start: 20210216
  365. VINCRISTINE [Suspect]
     Active Substance: VINCRISTINE
     Route: 065
     Dates: start: 20210105, end: 20210105
  366. VINCRISTINE [Suspect]
     Active Substance: VINCRISTINE
     Route: 065
     Dates: start: 20210126, end: 20210126
  367. VINCRISTINE [Suspect]
     Active Substance: VINCRISTINE
     Route: 065
     Dates: start: 20210309, end: 20210309
  368. VINCRISTINE [Suspect]
     Active Substance: VINCRISTINE
     Route: 065
     Dates: start: 20201215, end: 20201215
  369. ALLOPURINOL [Concomitant]
     Active Substance: ALLOPURINOL
     Route: 065
     Dates: start: 20201118
  370. ALLOPURINOL [Concomitant]
     Active Substance: ALLOPURINOL
     Route: 065
     Dates: start: 20201118
  371. ALLOPURINOL [Concomitant]
     Active Substance: ALLOPURINOL
     Route: 065
     Dates: start: 20201118
  372. ALLOPURINOL [Concomitant]
     Active Substance: ALLOPURINOL
     Route: 065
     Dates: start: 20201118
  373. ALLOPURINOL [Concomitant]
     Active Substance: ALLOPURINOL
     Route: 065
     Dates: start: 20201118
  374. ALLOPURINOL [Concomitant]
     Active Substance: ALLOPURINOL
     Route: 065
     Dates: start: 20201118
  375. ALLOPURINOL [Concomitant]
     Active Substance: ALLOPURINOL
     Route: 065
     Dates: start: 20201118
  376. ALLOPURINOL [Concomitant]
     Active Substance: ALLOPURINOL
     Route: 065
     Dates: start: 20201118
  377. ALLOPURINOL [Concomitant]
     Active Substance: ALLOPURINOL
     Route: 065
     Dates: start: 20201118
  378. ALLOPURINOL [Concomitant]
     Active Substance: ALLOPURINOL
     Route: 065
     Dates: start: 20201118
  379. ALLOPURINOL [Concomitant]
     Active Substance: ALLOPURINOL
     Route: 065
     Dates: start: 20201118
  380. ALLOPURINOL [Concomitant]
     Active Substance: ALLOPURINOL
     Route: 065
     Dates: start: 20201118
  381. ALLOPURINOL [Concomitant]
     Active Substance: ALLOPURINOL
     Route: 065
     Dates: start: 20201118
  382. ALLOPURINOL [Concomitant]
     Active Substance: ALLOPURINOL
     Route: 065
     Dates: start: 20201118
  383. ALLOPURINOL [Concomitant]
     Active Substance: ALLOPURINOL
     Route: 065
     Dates: start: 20201118
  384. ALLOPURINOL [Concomitant]
     Active Substance: ALLOPURINOL
     Route: 065
     Dates: start: 20201118
  385. ALLOPURINOL [Concomitant]
     Active Substance: ALLOPURINOL
     Route: 065
     Dates: start: 20201118
  386. ALLOPURINOL [Concomitant]
     Active Substance: ALLOPURINOL
     Route: 065
     Dates: start: 20201118
  387. ALLOPURINOL [Concomitant]
     Active Substance: ALLOPURINOL
     Route: 065
     Dates: start: 20201118
  388. ALLOPURINOL [Concomitant]
     Active Substance: ALLOPURINOL
     Route: 065
     Dates: start: 20201118
  389. ALLOPURINOL [Concomitant]
     Active Substance: ALLOPURINOL
     Route: 065
     Dates: start: 20201118
  390. ALLOPURINOL [Concomitant]
     Active Substance: ALLOPURINOL
     Route: 065
     Dates: start: 20201118
  391. ALLOPURINOL [Concomitant]
     Active Substance: ALLOPURINOL
     Route: 065
     Dates: start: 20201118
  392. ALLOPURINOL [Concomitant]
     Active Substance: ALLOPURINOL
     Route: 065
     Dates: start: 20201118
  393. ALLOPURINOL [Concomitant]
     Active Substance: ALLOPURINOL
     Route: 065
     Dates: start: 20201118
  394. ALLOPURINOL [Concomitant]
     Active Substance: ALLOPURINOL
     Route: 065
     Dates: start: 20201118
  395. ALLOPURINOL [Concomitant]
     Active Substance: ALLOPURINOL
     Route: 065
     Dates: start: 20201118
  396. ALLOPURINOL [Concomitant]
     Active Substance: ALLOPURINOL
     Route: 065
     Dates: start: 20201118
  397. ALLOPURINOL [Concomitant]
     Active Substance: ALLOPURINOL
     Route: 065
     Dates: start: 20201118
  398. ALLOPURINOL [Concomitant]
     Active Substance: ALLOPURINOL
     Route: 065
     Dates: start: 20201118
  399. ALLOPURINOL [Concomitant]
     Active Substance: ALLOPURINOL
     Route: 065
     Dates: start: 20201118
  400. ALLOPURINOL [Concomitant]
     Active Substance: ALLOPURINOL
     Route: 065
     Dates: start: 20201118
  401. ALLOPURINOL [Concomitant]
     Active Substance: ALLOPURINOL
     Route: 065
     Dates: start: 20201118
  402. ALLOPURINOL [Concomitant]
     Active Substance: ALLOPURINOL
     Route: 065
     Dates: start: 20201118
  403. ALLOPURINOL [Concomitant]
     Active Substance: ALLOPURINOL
     Route: 065
     Dates: start: 20201118
  404. ALLOPURINOL [Concomitant]
     Active Substance: ALLOPURINOL
     Route: 065
     Dates: start: 20201118
  405. ALLOPURINOL [Concomitant]
     Active Substance: ALLOPURINOL
     Route: 065
     Dates: start: 20201118
  406. ALLOPURINOL [Concomitant]
     Active Substance: ALLOPURINOL
     Route: 065
     Dates: start: 20201118
  407. ALLOPURINOL [Concomitant]
     Active Substance: ALLOPURINOL
     Route: 065
     Dates: start: 20201118
  408. ALLOPURINOL [Concomitant]
     Active Substance: ALLOPURINOL
     Route: 065
     Dates: start: 20201118
  409. ALLOPURINOL [Concomitant]
     Active Substance: ALLOPURINOL
     Route: 065
     Dates: start: 20201118
  410. ALLOPURINOL [Concomitant]
     Active Substance: ALLOPURINOL
     Route: 065
     Dates: start: 20201118
  411. ALLOPURINOL [Concomitant]
     Active Substance: ALLOPURINOL
     Indication: Prophylaxis
     Route: 050
     Dates: start: 20201118
  412. ALLOPURINOL [Concomitant]
     Active Substance: ALLOPURINOL
     Route: 065
     Dates: start: 20201118
  413. ALLOPURINOL [Concomitant]
     Active Substance: ALLOPURINOL
     Route: 065
     Dates: start: 20201118
  414. ALLOPURINOL [Concomitant]
     Active Substance: ALLOPURINOL
     Route: 065
     Dates: start: 20201118
  415. ALLOPURINOL [Concomitant]
     Active Substance: ALLOPURINOL
     Route: 065
     Dates: start: 20201118
  416. ALLOPURINOL [Concomitant]
     Active Substance: ALLOPURINOL
     Route: 065
     Dates: start: 20201118
  417. ALLOPURINOL [Concomitant]
     Active Substance: ALLOPURINOL
     Route: 065
     Dates: start: 20201118
  418. ALLOPURINOL [Concomitant]
     Active Substance: ALLOPURINOL
     Route: 065
     Dates: start: 20201118
  419. ALLOPURINOL [Concomitant]
     Active Substance: ALLOPURINOL
     Route: 065
     Dates: start: 20201118
  420. ALLOPURINOL [Concomitant]
     Active Substance: ALLOPURINOL
     Route: 065
     Dates: start: 20201118
  421. ALLOPURINOL [Concomitant]
     Active Substance: ALLOPURINOL
     Route: 065
     Dates: start: 20201118
  422. ALLOPURINOL [Concomitant]
     Active Substance: ALLOPURINOL
     Route: 065
     Dates: start: 20201118
  423. ALLOPURINOL [Concomitant]
     Active Substance: ALLOPURINOL
     Route: 065
     Dates: start: 20201118
  424. ALLOPURINOL [Concomitant]
     Active Substance: ALLOPURINOL
     Route: 065
     Dates: start: 20201118
  425. ALLOPURINOL [Concomitant]
     Active Substance: ALLOPURINOL
     Route: 065
     Dates: start: 20201118
  426. ALLOPURINOL [Concomitant]
     Active Substance: ALLOPURINOL
     Route: 065
     Dates: start: 20201118
  427. ALLOPURINOL [Concomitant]
     Active Substance: ALLOPURINOL
     Route: 065
     Dates: start: 20201118
  428. ALLOPURINOL [Concomitant]
     Active Substance: ALLOPURINOL
     Route: 065
     Dates: start: 20201118
  429. ALLOPURINOL [Concomitant]
     Active Substance: ALLOPURINOL
     Route: 065
     Dates: start: 20201118
  430. ALLOPURINOL [Concomitant]
     Active Substance: ALLOPURINOL
     Route: 065
     Dates: start: 20201118
  431. ALLOPURINOL [Concomitant]
     Active Substance: ALLOPURINOL
     Route: 065
     Dates: start: 20201118
  432. ALLOPURINOL [Concomitant]
     Active Substance: ALLOPURINOL
     Route: 065
     Dates: start: 20201118
  433. ALLOPURINOL [Concomitant]
     Active Substance: ALLOPURINOL
     Route: 065
     Dates: start: 20201118
  434. ALLOPURINOL [Concomitant]
     Active Substance: ALLOPURINOL
     Route: 065
     Dates: start: 20201118
  435. ALLOPURINOL [Concomitant]
     Active Substance: ALLOPURINOL
     Route: 065
     Dates: start: 20201118
  436. ALLOPURINOL [Concomitant]
     Active Substance: ALLOPURINOL
     Route: 065
     Dates: start: 20201118
  437. ALLOPURINOL [Concomitant]
     Active Substance: ALLOPURINOL
     Route: 065
     Dates: start: 20201118
  438. ALLOPURINOL [Concomitant]
     Active Substance: ALLOPURINOL
     Route: 065
     Dates: start: 20201118
  439. ALLOPURINOL [Concomitant]
     Active Substance: ALLOPURINOL
     Route: 065
     Dates: start: 20201118
  440. ALLOPURINOL [Concomitant]
     Active Substance: ALLOPURINOL
     Route: 065
     Dates: start: 20201118
  441. ALLOPURINOL [Concomitant]
     Active Substance: ALLOPURINOL
     Route: 065
     Dates: start: 20201118
  442. ALLOPURINOL [Concomitant]
     Active Substance: ALLOPURINOL
     Route: 065
     Dates: start: 20201118
  443. ALLOPURINOL [Concomitant]
     Active Substance: ALLOPURINOL
     Route: 065
     Dates: start: 20201118
  444. ALLOPURINOL [Concomitant]
     Active Substance: ALLOPURINOL
     Route: 065
     Dates: start: 20201118
  445. ALLOPURINOL [Concomitant]
     Active Substance: ALLOPURINOL
     Route: 065
     Dates: start: 20201118
  446. ALLOPURINOL [Concomitant]
     Active Substance: ALLOPURINOL
     Route: 065
     Dates: start: 20201118
  447. ALLOPURINOL [Concomitant]
     Active Substance: ALLOPURINOL
     Route: 065
     Dates: start: 20201118
  448. ALLOPURINOL [Concomitant]
     Active Substance: ALLOPURINOL
     Route: 065
     Dates: start: 20201118
  449. ALLOPURINOL [Concomitant]
     Active Substance: ALLOPURINOL
     Route: 065
     Dates: start: 20201118
  450. ALLOPURINOL [Concomitant]
     Active Substance: ALLOPURINOL
     Route: 065
     Dates: start: 20201118
  451. ALLOPURINOL [Concomitant]
     Active Substance: ALLOPURINOL
     Route: 065
     Dates: start: 20201118
  452. ALLOPURINOL [Concomitant]
     Active Substance: ALLOPURINOL
     Route: 065
     Dates: start: 20201118
  453. ALLOPURINOL [Concomitant]
     Active Substance: ALLOPURINOL
     Route: 065
     Dates: start: 20201118
  454. COVID-19 vaccine [Concomitant]
     Indication: Product used for unknown indication
     Route: 065
  455. COVID-19 vaccine [Concomitant]
     Route: 065
  456. COVID-19 vaccine [Concomitant]
     Route: 065
  457. CHLORPHENIRAMINE MALEATE [Concomitant]
     Active Substance: CHLORPHENIRAMINE MALEATE
     Indication: Rash maculo-papular
     Dosage: 10 MG EVRY 3 WEEKS / DOSE LAST STUDY DRUG ADMIN PRIOR AE 1260 MG START AD END DATE OF MOST RECENT DO
     Route: 050
     Dates: start: 20201124, end: 20201124
  458. CHLORPHENIRAMINE MALEATE [Concomitant]
     Active Substance: CHLORPHENIRAMINE MALEATE
     Route: 050
     Dates: start: 20210216, end: 20210216
  459. CHLORPHENIRAMINE MALEATE [Concomitant]
     Active Substance: CHLORPHENIRAMINE MALEATE
     Route: 050
     Dates: start: 20210302, end: 20210302
  460. CHLORPHENIRAMINE MALEATE [Concomitant]
     Active Substance: CHLORPHENIRAMINE MALEATE
     Route: 050
     Dates: start: 20210309, end: 20210309
  461. CHLORPHENIRAMINE MALEATE [Concomitant]
     Active Substance: CHLORPHENIRAMINE MALEATE
     Route: 065
     Dates: start: 20210119, end: 20210119
  462. CHLORPHENIRAMINE MALEATE [Concomitant]
     Active Substance: CHLORPHENIRAMINE MALEATE
     Route: 065
     Dates: start: 20210126, end: 20210126
  463. CHLORPHENIRAMINE MALEATE [Concomitant]
     Active Substance: CHLORPHENIRAMINE MALEATE
     Route: 065
     Dates: start: 20210209, end: 20210209
  464. CHLORPHENIRAMINE MALEATE [Concomitant]
     Active Substance: CHLORPHENIRAMINE MALEATE
     Route: 065
     Dates: start: 20210216, end: 20210216
  465. CHLORPHENIRAMINE MALEATE [Concomitant]
     Active Substance: CHLORPHENIRAMINE MALEATE
     Route: 065
     Dates: start: 20210309, end: 20210309
  466. CHLORPHENIRAMINE MALEATE [Concomitant]
     Active Substance: CHLORPHENIRAMINE MALEATE
     Route: 065
     Dates: start: 20201124, end: 20201124
  467. CHLORPHENIRAMINE MALEATE [Concomitant]
     Active Substance: CHLORPHENIRAMINE MALEATE
     Route: 065
     Dates: start: 20201124, end: 20201124
  468. CHLORPHENIRAMINE MALEATE [Concomitant]
     Active Substance: CHLORPHENIRAMINE MALEATE
     Route: 065
     Dates: start: 20210216, end: 20210216
  469. CHLORPHENIRAMINE MALEATE [Concomitant]
     Active Substance: CHLORPHENIRAMINE MALEATE
     Route: 065
     Dates: start: 20211206, end: 20211206
  470. CHLORPHENIRAMINE MALEATE [Concomitant]
     Active Substance: CHLORPHENIRAMINE MALEATE
     Route: 065
     Dates: start: 20210119, end: 20210119
  471. CHLORPHENIRAMINE MALEATE [Concomitant]
     Active Substance: CHLORPHENIRAMINE MALEATE
     Route: 065
     Dates: start: 20210309, end: 20210309
  472. CHLORPHENIRAMINE MALEATE [Concomitant]
     Active Substance: CHLORPHENIRAMINE MALEATE
     Route: 065
     Dates: start: 20210323, end: 20210323
  473. CHLORPHENIRAMINE MALEATE [Concomitant]
     Active Substance: CHLORPHENIRAMINE MALEATE
     Route: 065
     Dates: start: 20210323, end: 20210323
  474. CHLORPHENIRAMINE MALEATE [Concomitant]
     Active Substance: CHLORPHENIRAMINE MALEATE
     Route: 065
     Dates: start: 20201215, end: 20201215
  475. CHLORPHENIRAMINE MALEATE [Concomitant]
     Active Substance: CHLORPHENIRAMINE MALEATE
     Route: 050
     Dates: start: 20210119, end: 20210119
  476. CHLORPHENIRAMINE MALEATE [Concomitant]
     Active Substance: CHLORPHENIRAMINE MALEATE
     Route: 065
     Dates: start: 20210126, end: 20210126
  477. CHLORPHENIRAMINE MALEATE [Concomitant]
     Active Substance: CHLORPHENIRAMINE MALEATE
     Route: 065
     Dates: start: 20210209, end: 20210209
  478. CHLORPHENIRAMINE MALEATE [Concomitant]
     Active Substance: CHLORPHENIRAMINE MALEATE
     Route: 065
     Dates: start: 20210302, end: 20210302
  479. CHLORPHENIRAMINE MALEATE [Concomitant]
     Active Substance: CHLORPHENIRAMINE MALEATE
     Route: 065
     Dates: start: 20210309, end: 20210309
  480. CHLORPHENIRAMINE MALEATE [Concomitant]
     Active Substance: CHLORPHENIRAMINE MALEATE
     Route: 065
     Dates: start: 20210119, end: 20210119
  481. CHLORPHENIRAMINE MALEATE [Concomitant]
     Active Substance: CHLORPHENIRAMINE MALEATE
     Route: 065
     Dates: start: 20210209, end: 20210209
  482. CHLORPHENIRAMINE MALEATE [Concomitant]
     Active Substance: CHLORPHENIRAMINE MALEATE
     Route: 065
     Dates: start: 20201217
  483. CHLORPHENIRAMINE MALEATE [Concomitant]
     Active Substance: CHLORPHENIRAMINE MALEATE
     Route: 065
     Dates: start: 20210119, end: 20210119
  484. CHLORPHENIRAMINE MALEATE [Concomitant]
     Active Substance: CHLORPHENIRAMINE MALEATE
     Route: 065
     Dates: start: 20210119, end: 20210119
  485. CHLORPHENIRAMINE MALEATE [Concomitant]
     Active Substance: CHLORPHENIRAMINE MALEATE
     Route: 065
     Dates: start: 20210126, end: 20210126
  486. CHLORPHENIRAMINE MALEATE [Concomitant]
     Active Substance: CHLORPHENIRAMINE MALEATE
     Route: 065
     Dates: start: 20210126, end: 20210126
  487. CHLORPHENIRAMINE MALEATE [Concomitant]
     Active Substance: CHLORPHENIRAMINE MALEATE
     Route: 065
     Dates: start: 20210302, end: 20210302
  488. CHLORPHENIRAMINE MALEATE [Concomitant]
     Active Substance: CHLORPHENIRAMINE MALEATE
     Route: 065
     Dates: start: 20210309, end: 20210309
  489. CHLORPHENIRAMINE MALEATE [Concomitant]
     Active Substance: CHLORPHENIRAMINE MALEATE
     Route: 065
     Dates: start: 20201215, end: 20201215
  490. CHLORPHENIRAMINE MALEATE [Concomitant]
     Active Substance: CHLORPHENIRAMINE MALEATE
     Route: 065
     Dates: start: 20201215, end: 20201215
  491. CHLORPHENIRAMINE MALEATE [Concomitant]
     Active Substance: CHLORPHENIRAMINE MALEATE
     Route: 065
     Dates: start: 20201215, end: 20201215
  492. CHLORPHENIRAMINE MALEATE [Concomitant]
     Active Substance: CHLORPHENIRAMINE MALEATE
     Route: 065
     Dates: start: 20201215, end: 20201215
  493. CHLORPHENIRAMINE MALEATE [Concomitant]
     Active Substance: CHLORPHENIRAMINE MALEATE
     Route: 065
     Dates: start: 20201217
  494. CHLORPHENIRAMINE MALEATE [Concomitant]
     Active Substance: CHLORPHENIRAMINE MALEATE
     Route: 065
     Dates: start: 20201217
  495. CHLORPHENIRAMINE MALEATE [Concomitant]
     Active Substance: CHLORPHENIRAMINE MALEATE
     Route: 065
     Dates: start: 20201217
  496. CHLORPHENIRAMINE MALEATE [Concomitant]
     Active Substance: CHLORPHENIRAMINE MALEATE
     Route: 065
     Dates: start: 20201217
  497. CHLORPHENIRAMINE MALEATE [Concomitant]
     Active Substance: CHLORPHENIRAMINE MALEATE
     Route: 065
     Dates: start: 20201217
  498. CHLORPHENIRAMINE MALEATE [Concomitant]
     Active Substance: CHLORPHENIRAMINE MALEATE
     Route: 065
     Dates: start: 20201217
  499. CHLORPHENIRAMINE MALEATE [Concomitant]
     Active Substance: CHLORPHENIRAMINE MALEATE
     Route: 065
     Dates: start: 20201217
  500. CHLORPHENIRAMINE MALEATE [Concomitant]
     Active Substance: CHLORPHENIRAMINE MALEATE
     Route: 065
     Dates: start: 20201217
  501. CHLORPHENIRAMINE MALEATE [Concomitant]
     Active Substance: CHLORPHENIRAMINE MALEATE
     Route: 065
     Dates: start: 20201217
  502. CHLORPHENIRAMINE MALEATE [Concomitant]
     Active Substance: CHLORPHENIRAMINE MALEATE
     Route: 065
     Dates: start: 20201217
  503. CHLORPHENIRAMINE MALEATE [Concomitant]
     Active Substance: CHLORPHENIRAMINE MALEATE
     Route: 065
     Dates: start: 20201217
  504. CHLORPHENIRAMINE MALEATE [Concomitant]
     Active Substance: CHLORPHENIRAMINE MALEATE
     Route: 065
     Dates: start: 20210119, end: 20210119
  505. CHLORPHENIRAMINE MALEATE [Concomitant]
     Active Substance: CHLORPHENIRAMINE MALEATE
     Route: 065
     Dates: start: 20210119, end: 20210119
  506. CHLORPHENIRAMINE MALEATE [Concomitant]
     Active Substance: CHLORPHENIRAMINE MALEATE
     Route: 065
     Dates: start: 20210119, end: 20210119
  507. CHLORPHENIRAMINE MALEATE [Concomitant]
     Active Substance: CHLORPHENIRAMINE MALEATE
     Route: 065
     Dates: start: 20210119, end: 20210119
  508. CHLORPHENIRAMINE MALEATE [Concomitant]
     Active Substance: CHLORPHENIRAMINE MALEATE
     Route: 065
     Dates: start: 20210126, end: 20210126
  509. CHLORPHENIRAMINE MALEATE [Concomitant]
     Active Substance: CHLORPHENIRAMINE MALEATE
     Route: 065
     Dates: start: 20210126, end: 20210126
  510. CHLORPHENIRAMINE MALEATE [Concomitant]
     Active Substance: CHLORPHENIRAMINE MALEATE
     Route: 065
     Dates: start: 20210126, end: 20210126
  511. CHLORPHENIRAMINE MALEATE [Concomitant]
     Active Substance: CHLORPHENIRAMINE MALEATE
     Route: 065
     Dates: start: 20210126, end: 20210126
  512. CHLORPHENIRAMINE MALEATE [Concomitant]
     Active Substance: CHLORPHENIRAMINE MALEATE
     Route: 065
     Dates: start: 20210209, end: 20210209
  513. CHLORPHENIRAMINE MALEATE [Concomitant]
     Active Substance: CHLORPHENIRAMINE MALEATE
     Route: 065
     Dates: start: 20210209, end: 20210209
  514. CHLORPHENIRAMINE MALEATE [Concomitant]
     Active Substance: CHLORPHENIRAMINE MALEATE
     Route: 065
     Dates: start: 20210209, end: 20210209
  515. CHLORPHENIRAMINE MALEATE [Concomitant]
     Active Substance: CHLORPHENIRAMINE MALEATE
     Route: 065
     Dates: start: 20210209, end: 20210209
  516. CHLORPHENIRAMINE MALEATE [Concomitant]
     Active Substance: CHLORPHENIRAMINE MALEATE
     Route: 065
     Dates: start: 20210216, end: 20210216
  517. CHLORPHENIRAMINE MALEATE [Concomitant]
     Active Substance: CHLORPHENIRAMINE MALEATE
     Route: 065
     Dates: start: 20210216, end: 20210216
  518. CHLORPHENIRAMINE MALEATE [Concomitant]
     Active Substance: CHLORPHENIRAMINE MALEATE
     Route: 065
     Dates: start: 20210216, end: 20210216
  519. CHLORPHENIRAMINE MALEATE [Concomitant]
     Active Substance: CHLORPHENIRAMINE MALEATE
     Route: 065
     Dates: start: 20210216, end: 20210216
  520. CHLORPHENIRAMINE MALEATE [Concomitant]
     Active Substance: CHLORPHENIRAMINE MALEATE
     Route: 065
     Dates: start: 20210302, end: 20210302
  521. CHLORPHENIRAMINE MALEATE [Concomitant]
     Active Substance: CHLORPHENIRAMINE MALEATE
     Route: 065
     Dates: start: 20210302, end: 20210302
  522. CHLORPHENIRAMINE MALEATE [Concomitant]
     Active Substance: CHLORPHENIRAMINE MALEATE
     Route: 065
     Dates: start: 20210302, end: 20210302
  523. CHLORPHENIRAMINE MALEATE [Concomitant]
     Active Substance: CHLORPHENIRAMINE MALEATE
     Route: 065
     Dates: start: 20210302, end: 20210302
  524. CHLORPHENIRAMINE MALEATE [Concomitant]
     Active Substance: CHLORPHENIRAMINE MALEATE
     Route: 065
     Dates: start: 20210309, end: 20210309
  525. CHLORPHENIRAMINE MALEATE [Concomitant]
     Active Substance: CHLORPHENIRAMINE MALEATE
     Route: 065
     Dates: start: 20210309, end: 20210309
  526. CHLORPHENIRAMINE MALEATE [Concomitant]
     Active Substance: CHLORPHENIRAMINE MALEATE
     Route: 065
     Dates: start: 20210309, end: 20210309
  527. CHLORPHENIRAMINE MALEATE [Concomitant]
     Active Substance: CHLORPHENIRAMINE MALEATE
     Route: 065
     Dates: start: 20210309, end: 20210309
  528. CHLORPHENIRAMINE MALEATE [Concomitant]
     Active Substance: CHLORPHENIRAMINE MALEATE
     Route: 065
     Dates: start: 20201124, end: 20201124
  529. CHLORPHENIRAMINE MALEATE [Concomitant]
     Active Substance: CHLORPHENIRAMINE MALEATE
     Route: 065
     Dates: start: 20210206, end: 20210206
  530. CHLORPHENIRAMINE MALEATE [Concomitant]
     Active Substance: CHLORPHENIRAMINE MALEATE
     Route: 065
     Dates: start: 20201124, end: 20201124
  531. CHLORPHENIRAMINE MALEATE [Concomitant]
     Active Substance: CHLORPHENIRAMINE MALEATE
     Route: 065
     Dates: start: 20201124, end: 20201124
  532. CHLORPHENIRAMINE MALEATE [Concomitant]
     Active Substance: CHLORPHENIRAMINE MALEATE
     Route: 065
     Dates: start: 20201124, end: 20201124
  533. CHLORPHENIRAMINE MALEATE [Concomitant]
     Active Substance: CHLORPHENIRAMINE MALEATE
     Route: 065
     Dates: start: 20201124, end: 20201124
  534. CHLORPHENIRAMINE MALEATE [Concomitant]
     Active Substance: CHLORPHENIRAMINE MALEATE
     Route: 065
     Dates: start: 20210216, end: 20210216
  535. CHLORPHENIRAMINE MALEATE [Concomitant]
     Active Substance: CHLORPHENIRAMINE MALEATE
     Route: 065
     Dates: start: 20201215, end: 20201215
  536. CHLORPHENIRAMINE MALEATE [Concomitant]
     Active Substance: CHLORPHENIRAMINE MALEATE
     Route: 040
     Dates: start: 20210323, end: 20210323
  537. CHLORPHENIRAMINE MALEATE [Concomitant]
     Active Substance: CHLORPHENIRAMINE MALEATE
     Route: 065
     Dates: start: 20201124, end: 20201124
  538. CHLORPHENIRAMINE MALEATE [Concomitant]
     Active Substance: CHLORPHENIRAMINE MALEATE
     Route: 065
     Dates: start: 20201215, end: 20201215
  539. CHLORPHENIRAMINE MALEATE [Concomitant]
     Active Substance: CHLORPHENIRAMINE MALEATE
     Route: 065
     Dates: start: 20201217
  540. CHLORPHENIRAMINE MALEATE [Concomitant]
     Active Substance: CHLORPHENIRAMINE MALEATE
     Route: 065
     Dates: start: 20210209, end: 20210209
  541. CHLORPHENIRAMINE MALEATE [Concomitant]
     Active Substance: CHLORPHENIRAMINE MALEATE
     Route: 065
     Dates: start: 20210216, end: 20210216
  542. CHLORPHENIRAMINE MALEATE [Concomitant]
     Active Substance: CHLORPHENIRAMINE MALEATE
     Route: 065
     Dates: start: 20210302, end: 20210302
  543. CHLORPHENIRAMINE MALEATE [Concomitant]
     Active Substance: CHLORPHENIRAMINE MALEATE
     Route: 065
     Dates: start: 20210309, end: 20210309
  544. CHLORPHENIRAMINE MALEATE [Concomitant]
     Active Substance: CHLORPHENIRAMINE MALEATE
     Route: 065
     Dates: start: 20210323, end: 20210323
  545. CHLORPHENIRAMINE MALEATE [Concomitant]
     Active Substance: CHLORPHENIRAMINE MALEATE
     Route: 065
     Dates: start: 20210323, end: 20210323
  546. CHLORPHENIRAMINE MALEATE [Concomitant]
     Active Substance: CHLORPHENIRAMINE MALEATE
     Route: 065
     Dates: start: 20210323, end: 20210323
  547. CHLORPHENIRAMINE MALEATE [Concomitant]
     Active Substance: CHLORPHENIRAMINE MALEATE
     Route: 065
     Dates: start: 20210323, end: 20210323
  548. CHLORPHENIRAMINE MALEATE [Concomitant]
     Active Substance: CHLORPHENIRAMINE MALEATE
     Route: 065
     Dates: start: 20210323, end: 20210323
  549. CHLORPHENIRAMINE MALEATE [Concomitant]
     Active Substance: CHLORPHENIRAMINE MALEATE
     Route: 065
     Dates: start: 20210209, end: 20210209
  550. CHLORPHENIRAMINE MALEATE [Concomitant]
     Active Substance: CHLORPHENIRAMINE MALEATE
     Route: 065
     Dates: start: 20201217
  551. CHLORPHENIRAMINE MALEATE [Concomitant]
     Active Substance: CHLORPHENIRAMINE MALEATE
     Route: 050
     Dates: start: 20210323, end: 20210323
  552. CHLORPHENIRAMINE MALEATE [Concomitant]
     Active Substance: CHLORPHENIRAMINE MALEATE
     Route: 065
     Dates: start: 20201217
  553. CHLORPHENIRAMINE MALEATE [Concomitant]
     Active Substance: CHLORPHENIRAMINE MALEATE
     Route: 065
     Dates: start: 20210323, end: 20210323
  554. CHLORPHENIRAMINE MALEATE [Concomitant]
     Active Substance: CHLORPHENIRAMINE MALEATE
     Indication: Prophylaxis
     Route: 050
     Dates: start: 20201215, end: 20201215
  555. CHLORPHENIRAMINE MALEATE [Concomitant]
     Active Substance: CHLORPHENIRAMINE MALEATE
     Route: 050
     Dates: start: 20210126, end: 20210126
  556. CHLORPHENIRAMINE MALEATE [Concomitant]
     Active Substance: CHLORPHENIRAMINE MALEATE
     Route: 050
     Dates: start: 20210209, end: 20210209
  557. CHLORPHENIRAMINE MALEATE [Concomitant]
     Active Substance: CHLORPHENIRAMINE MALEATE
     Route: 065
  558. CHLORPHENIRAMINE MALEATE [Concomitant]
     Active Substance: CHLORPHENIRAMINE MALEATE
     Route: 065
  559. CODEINE [Concomitant]
     Active Substance: CODEINE
     Route: 065
     Dates: start: 20201123
  560. CODEINE [Concomitant]
     Active Substance: CODEINE
     Route: 065
     Dates: start: 20201123
  561. CODEINE [Concomitant]
     Active Substance: CODEINE
     Route: 065
     Dates: start: 20201224, end: 20201224
  562. CODEINE [Concomitant]
     Active Substance: CODEINE
     Route: 065
     Dates: start: 20201224, end: 20201224
  563. CODEINE [Concomitant]
     Active Substance: CODEINE
     Route: 065
     Dates: start: 20201224, end: 20201224
  564. CODEINE [Concomitant]
     Active Substance: CODEINE
     Route: 065
     Dates: start: 20201224, end: 20201224
  565. CODEINE [Concomitant]
     Active Substance: CODEINE
     Route: 065
     Dates: start: 20201224, end: 20201224
  566. CODEINE [Concomitant]
     Active Substance: CODEINE
     Route: 065
     Dates: start: 20201224, end: 20201224
  567. CODEINE [Concomitant]
     Active Substance: CODEINE
     Route: 065
     Dates: start: 20201224, end: 20201224
  568. CODEINE [Concomitant]
     Active Substance: CODEINE
     Route: 065
     Dates: start: 20201224, end: 20201224
  569. CODEINE [Concomitant]
     Active Substance: CODEINE
     Route: 065
     Dates: start: 20201224, end: 20201224
  570. CODEINE [Concomitant]
     Active Substance: CODEINE
     Route: 065
     Dates: start: 20201224, end: 20201224
  571. CODEINE [Concomitant]
     Active Substance: CODEINE
     Route: 065
     Dates: start: 20201224, end: 20201224
  572. CODEINE [Concomitant]
     Active Substance: CODEINE
     Route: 065
     Dates: start: 20201224, end: 20201224
  573. CODEINE [Concomitant]
     Active Substance: CODEINE
     Route: 065
     Dates: start: 20201224, end: 20201224
  574. CODEINE [Concomitant]
     Active Substance: CODEINE
     Route: 065
     Dates: start: 20201224, end: 20201224
  575. CODEINE [Concomitant]
     Active Substance: CODEINE
     Route: 065
     Dates: start: 20201224, end: 20201224
  576. CODEINE [Concomitant]
     Active Substance: CODEINE
     Route: 065
     Dates: start: 20201224, end: 20201224
  577. CODEINE [Concomitant]
     Active Substance: CODEINE
     Route: 065
     Dates: start: 20201224, end: 20201224
  578. CODEINE [Concomitant]
     Active Substance: CODEINE
     Route: 050
     Dates: start: 20201123
  579. CODEINE [Concomitant]
     Active Substance: CODEINE
     Route: 065
     Dates: start: 20201123
  580. CODEINE [Concomitant]
     Active Substance: CODEINE
     Route: 065
     Dates: start: 20201123
  581. CODEINE [Concomitant]
     Active Substance: CODEINE
     Route: 065
     Dates: start: 20201123
  582. CODEINE [Concomitant]
     Active Substance: CODEINE
     Route: 065
     Dates: start: 20201123
  583. CODEINE [Concomitant]
     Active Substance: CODEINE
     Route: 065
     Dates: start: 20201123
  584. CODEINE [Concomitant]
     Active Substance: CODEINE
     Indication: Pain
     Route: 050
     Dates: start: 20201123
  585. DEXAMETHASONE [Concomitant]
     Active Substance: DEXAMETHASONE
     Route: 065
     Dates: start: 20210323, end: 20210323
  586. DEXAMETHASONE [Concomitant]
     Active Substance: DEXAMETHASONE
     Route: 065
     Dates: start: 20210323, end: 20210323
  587. DEXAMETHASONE [Concomitant]
     Active Substance: DEXAMETHASONE
     Route: 065
     Dates: start: 20210323, end: 20210323
  588. DEXAMETHASONE [Concomitant]
     Active Substance: DEXAMETHASONE
     Route: 065
     Dates: start: 20210323, end: 20210323
  589. DEXAMETHASONE [Concomitant]
     Active Substance: DEXAMETHASONE
     Route: 065
     Dates: start: 20210323, end: 20210323
  590. DEXAMETHASONE [Concomitant]
     Active Substance: DEXAMETHASONE
     Route: 065
     Dates: start: 20210323, end: 20210323
  591. DEXAMETHASONE [Concomitant]
     Active Substance: DEXAMETHASONE
     Route: 065
     Dates: start: 20210323, end: 20210323
  592. DEXAMETHASONE [Concomitant]
     Active Substance: DEXAMETHASONE
     Route: 065
     Dates: start: 20210119, end: 20210119
  593. DEXAMETHASONE [Concomitant]
     Active Substance: DEXAMETHASONE
     Route: 065
     Dates: start: 20210119, end: 20210119
  594. DEXAMETHASONE [Concomitant]
     Active Substance: DEXAMETHASONE
     Route: 065
     Dates: start: 20210119, end: 20210119
  595. DEXAMETHASONE [Concomitant]
     Active Substance: DEXAMETHASONE
     Route: 065
     Dates: start: 20210209, end: 20210209
  596. DEXAMETHASONE [Concomitant]
     Active Substance: DEXAMETHASONE
     Route: 065
     Dates: start: 20210209, end: 20210209
  597. DEXAMETHASONE [Concomitant]
     Active Substance: DEXAMETHASONE
     Route: 065
     Dates: start: 20210302, end: 20210302
  598. DEXAMETHASONE [Concomitant]
     Active Substance: DEXAMETHASONE
     Route: 065
     Dates: start: 20210302, end: 20210302
  599. DEXAMETHASONE [Concomitant]
     Active Substance: DEXAMETHASONE
     Route: 065
     Dates: start: 20210323, end: 20210323
  600. DEXAMETHASONE [Concomitant]
     Active Substance: DEXAMETHASONE
     Route: 065
     Dates: start: 20210323, end: 20210323
  601. DEXAMETHASONE [Concomitant]
     Active Substance: DEXAMETHASONE
     Route: 042
     Dates: start: 20210323, end: 20210323
  602. DEXAMETHASONE [Concomitant]
     Active Substance: DEXAMETHASONE
     Route: 065
     Dates: start: 20210119, end: 20210119
  603. DEXAMETHASONE [Concomitant]
     Active Substance: DEXAMETHASONE
     Route: 065
     Dates: start: 20210119, end: 20210119
  604. DEXAMETHASONE [Concomitant]
     Active Substance: DEXAMETHASONE
     Route: 065
     Dates: start: 20210119, end: 20210119
  605. DEXAMETHASONE [Concomitant]
     Active Substance: DEXAMETHASONE
     Route: 065
     Dates: start: 20210209, end: 20210209
  606. DEXAMETHASONE [Concomitant]
     Active Substance: DEXAMETHASONE
     Route: 065
     Dates: start: 20210209, end: 20210209
  607. DEXAMETHASONE [Concomitant]
     Active Substance: DEXAMETHASONE
     Route: 065
     Dates: start: 20210209, end: 20210209
  608. DEXAMETHASONE [Concomitant]
     Active Substance: DEXAMETHASONE
     Route: 065
     Dates: start: 20210302, end: 20210302
  609. DEXAMETHASONE [Concomitant]
     Active Substance: DEXAMETHASONE
     Route: 065
     Dates: start: 20210302, end: 20210302
  610. DEXAMETHASONE [Concomitant]
     Active Substance: DEXAMETHASONE
     Route: 065
     Dates: start: 20210302, end: 20210302
  611. DEXAMETHASONE [Concomitant]
     Active Substance: DEXAMETHASONE
     Route: 065
     Dates: start: 20210302, end: 20210302
  612. DEXAMETHASONE [Concomitant]
     Active Substance: DEXAMETHASONE
     Route: 065
     Dates: start: 20210323, end: 20210323
  613. DEXAMETHASONE [Concomitant]
     Active Substance: DEXAMETHASONE
     Route: 065
     Dates: start: 20210323, end: 20210323
  614. DEXAMETHASONE [Concomitant]
     Active Substance: DEXAMETHASONE
     Route: 065
     Dates: start: 20210323, end: 20210323
  615. DEXAMETHASONE [Concomitant]
     Active Substance: DEXAMETHASONE
     Route: 065
     Dates: start: 20210119, end: 20210119
  616. DEXAMETHASONE [Concomitant]
     Active Substance: DEXAMETHASONE
     Route: 065
     Dates: start: 20210119, end: 20210119
  617. DEXAMETHASONE [Concomitant]
     Active Substance: DEXAMETHASONE
     Route: 065
     Dates: start: 20210119, end: 20210119
  618. DEXAMETHASONE [Concomitant]
     Active Substance: DEXAMETHASONE
     Route: 065
     Dates: start: 20210119, end: 20210119
  619. DEXAMETHASONE [Concomitant]
     Active Substance: DEXAMETHASONE
     Route: 065
     Dates: start: 20210119, end: 20210119
  620. DEXAMETHASONE [Concomitant]
     Active Substance: DEXAMETHASONE
     Route: 065
     Dates: start: 20210119, end: 20210119
  621. DEXAMETHASONE [Concomitant]
     Active Substance: DEXAMETHASONE
     Route: 065
     Dates: start: 20210119, end: 20210119
  622. DEXAMETHASONE [Concomitant]
     Active Substance: DEXAMETHASONE
     Route: 065
     Dates: start: 20210119, end: 20210119
  623. DEXAMETHASONE [Concomitant]
     Active Substance: DEXAMETHASONE
     Route: 065
     Dates: start: 20210119, end: 20210119
  624. DEXAMETHASONE [Concomitant]
     Active Substance: DEXAMETHASONE
     Route: 065
     Dates: start: 20210119, end: 20210119
  625. DEXAMETHASONE [Concomitant]
     Active Substance: DEXAMETHASONE
     Route: 065
     Dates: start: 20210119, end: 20210119
  626. DEXAMETHASONE [Concomitant]
     Active Substance: DEXAMETHASONE
     Route: 065
     Dates: start: 20210119, end: 20210119
  627. DEXAMETHASONE [Concomitant]
     Active Substance: DEXAMETHASONE
     Route: 065
     Dates: start: 20210209, end: 20210209
  628. DEXAMETHASONE [Concomitant]
     Active Substance: DEXAMETHASONE
     Route: 065
     Dates: start: 20210209, end: 20210209
  629. DEXAMETHASONE [Concomitant]
     Active Substance: DEXAMETHASONE
     Route: 065
     Dates: start: 20210209, end: 20210209
  630. DEXAMETHASONE [Concomitant]
     Active Substance: DEXAMETHASONE
     Route: 065
     Dates: start: 20210209, end: 20210209
  631. DEXAMETHASONE [Concomitant]
     Active Substance: DEXAMETHASONE
     Route: 065
     Dates: start: 20210209, end: 20210209
  632. DEXAMETHASONE [Concomitant]
     Active Substance: DEXAMETHASONE
     Route: 065
     Dates: start: 20210209, end: 20210209
  633. DEXAMETHASONE [Concomitant]
     Active Substance: DEXAMETHASONE
     Route: 065
     Dates: start: 20210209, end: 20210209
  634. DEXAMETHASONE [Concomitant]
     Active Substance: DEXAMETHASONE
     Route: 065
     Dates: start: 20210209, end: 20210209
  635. DEXAMETHASONE [Concomitant]
     Active Substance: DEXAMETHASONE
     Route: 065
     Dates: start: 20210209, end: 20210209
  636. DEXAMETHASONE [Concomitant]
     Active Substance: DEXAMETHASONE
     Route: 065
     Dates: start: 20210209, end: 20210209
  637. DEXAMETHASONE [Concomitant]
     Active Substance: DEXAMETHASONE
     Route: 065
     Dates: start: 20210209, end: 20210209
  638. DEXAMETHASONE [Concomitant]
     Active Substance: DEXAMETHASONE
     Route: 065
     Dates: start: 20210209, end: 20210209
  639. DEXAMETHASONE [Concomitant]
     Active Substance: DEXAMETHASONE
     Route: 065
     Dates: start: 20210209, end: 20210209
  640. DEXAMETHASONE [Concomitant]
     Active Substance: DEXAMETHASONE
     Route: 065
     Dates: start: 20210302, end: 20210302
  641. DEXAMETHASONE [Concomitant]
     Active Substance: DEXAMETHASONE
     Route: 065
     Dates: start: 20210302, end: 20210302
  642. DEXAMETHASONE [Concomitant]
     Active Substance: DEXAMETHASONE
     Route: 065
     Dates: start: 20210302, end: 20210302
  643. DEXAMETHASONE [Concomitant]
     Active Substance: DEXAMETHASONE
     Route: 065
     Dates: start: 20210302, end: 20210302
  644. DEXAMETHASONE [Concomitant]
     Active Substance: DEXAMETHASONE
     Route: 065
     Dates: start: 20210302, end: 20210302
  645. DEXAMETHASONE [Concomitant]
     Active Substance: DEXAMETHASONE
     Route: 065
     Dates: start: 20210302, end: 20210302
  646. DEXAMETHASONE [Concomitant]
     Active Substance: DEXAMETHASONE
     Route: 065
     Dates: start: 20210302, end: 20210302
  647. DEXAMETHASONE [Concomitant]
     Active Substance: DEXAMETHASONE
     Route: 065
     Dates: start: 20210302, end: 20210302
  648. DEXAMETHASONE [Concomitant]
     Active Substance: DEXAMETHASONE
     Route: 065
     Dates: start: 20210302, end: 20210302
  649. DEXAMETHASONE [Concomitant]
     Active Substance: DEXAMETHASONE
     Route: 065
     Dates: start: 20210302, end: 20210302
  650. DEXAMETHASONE [Concomitant]
     Active Substance: DEXAMETHASONE
     Route: 065
     Dates: start: 20210302, end: 20210302
  651. DEXAMETHASONE [Concomitant]
     Active Substance: DEXAMETHASONE
     Route: 065
     Dates: start: 20210323, end: 20210323
  652. DEXAMETHASONE [Concomitant]
     Active Substance: DEXAMETHASONE
     Route: 065
     Dates: start: 20210323, end: 20210323
  653. DEXAMETHASONE [Concomitant]
     Active Substance: DEXAMETHASONE
     Route: 065
     Dates: start: 20210323, end: 20210323
  654. DEXAMETHASONE [Concomitant]
     Active Substance: DEXAMETHASONE
     Route: 065
     Dates: start: 20210323, end: 20210323
  655. DEXAMETHASONE [Concomitant]
     Active Substance: DEXAMETHASONE
     Route: 065
     Dates: start: 20210323, end: 20210323
  656. DEXAMETHASONE [Concomitant]
     Active Substance: DEXAMETHASONE
     Route: 065
     Dates: start: 20210323, end: 20210323
  657. DEXAMETHASONE [Concomitant]
     Active Substance: DEXAMETHASONE
     Route: 065
     Dates: start: 20210323, end: 20210323
  658. DEXAMETHASONE [Concomitant]
     Active Substance: DEXAMETHASONE
     Route: 065
     Dates: start: 20210323, end: 20210323
  659. DEXAMETHASONE [Concomitant]
     Active Substance: DEXAMETHASONE
     Route: 065
     Dates: start: 20210323, end: 20210323
  660. DEXAMETHASONE [Concomitant]
     Active Substance: DEXAMETHASONE
     Route: 065
     Dates: start: 20210323, end: 20210323
  661. DEXAMETHASONE [Concomitant]
     Active Substance: DEXAMETHASONE
     Route: 065
     Dates: start: 20210323, end: 20210323
  662. DEXAMETHASONE [Concomitant]
     Active Substance: DEXAMETHASONE
     Route: 042
     Dates: start: 20210323, end: 20210323
  663. DEXAMETHASONE [Concomitant]
     Active Substance: DEXAMETHASONE
     Route: 040
     Dates: start: 20210302, end: 20210302
  664. DEXAMETHASONE [Concomitant]
     Active Substance: DEXAMETHASONE
     Indication: Product used for unknown indication
     Route: 042
     Dates: start: 20210209, end: 20210209
  665. DEXAMETHASONE [Concomitant]
     Active Substance: DEXAMETHASONE
     Route: 042
     Dates: start: 20210119, end: 20210119
  666. DEXAMETHASONE [Concomitant]
     Active Substance: DEXAMETHASONE
     Route: 042
     Dates: start: 20210302, end: 20210302
  667. DEXAMETHASONE [Concomitant]
     Active Substance: DEXAMETHASONE
     Route: 065
     Dates: start: 20210119, end: 20210119
  668. DEXAMETHASONE [Concomitant]
     Active Substance: DEXAMETHASONE
     Route: 065
     Dates: start: 20210209, end: 20210209
  669. DEXAMETHASONE [Concomitant]
     Active Substance: DEXAMETHASONE
     Route: 065
     Dates: start: 20210119, end: 20210119
  670. DEXAMETHASONE [Concomitant]
     Active Substance: DEXAMETHASONE
     Route: 065
     Dates: start: 20210119, end: 20210119
  671. DEXAMETHASONE [Concomitant]
     Active Substance: DEXAMETHASONE
     Route: 065
     Dates: start: 20210119, end: 20210119
  672. DEXAMETHASONE [Concomitant]
     Active Substance: DEXAMETHASONE
     Route: 065
     Dates: start: 20210119, end: 20210119
  673. DEXAMETHASONE [Concomitant]
     Active Substance: DEXAMETHASONE
     Route: 065
     Dates: start: 20210209, end: 20210209
  674. DEXAMETHASONE [Concomitant]
     Active Substance: DEXAMETHASONE
     Route: 065
     Dates: start: 20210209, end: 20210209
  675. DEXAMETHASONE [Concomitant]
     Active Substance: DEXAMETHASONE
     Route: 065
     Dates: start: 20210209, end: 20210209
  676. DEXAMETHASONE [Concomitant]
     Active Substance: DEXAMETHASONE
     Route: 065
     Dates: start: 20210209, end: 20210209
  677. DEXAMETHASONE [Concomitant]
     Active Substance: DEXAMETHASONE
     Route: 065
     Dates: start: 20210209, end: 20210209
  678. DEXAMETHASONE [Concomitant]
     Active Substance: DEXAMETHASONE
     Route: 065
     Dates: start: 20210302, end: 20210302
  679. DEXAMETHASONE [Concomitant]
     Active Substance: DEXAMETHASONE
     Route: 065
     Dates: start: 20210302, end: 20210302
  680. DEXAMETHASONE [Concomitant]
     Active Substance: DEXAMETHASONE
     Route: 065
     Dates: start: 20210302, end: 20210302
  681. DEXAMETHASONE [Concomitant]
     Active Substance: DEXAMETHASONE
     Route: 065
     Dates: start: 20210302, end: 20210302
  682. DEXAMETHASONE [Concomitant]
     Active Substance: DEXAMETHASONE
     Route: 065
     Dates: start: 20210302, end: 20210302
  683. DEXAMETHASONE [Concomitant]
     Active Substance: DEXAMETHASONE
     Route: 065
     Dates: start: 20210302, end: 20210302
  684. DEXAMETHASONE [Concomitant]
     Active Substance: DEXAMETHASONE
     Route: 065
     Dates: start: 20210323, end: 20210323
  685. DEXAMETHASONE [Concomitant]
     Active Substance: DEXAMETHASONE
     Route: 065
     Dates: start: 20210323, end: 20210323
  686. DEXAMETHASONE [Concomitant]
     Active Substance: DEXAMETHASONE
     Route: 065
     Dates: start: 20210323, end: 20210323
  687. DEXAMETHASONE [Concomitant]
     Active Substance: DEXAMETHASONE
     Route: 065
     Dates: start: 20210323, end: 20210323
  688. DEXAMETHASONE [Concomitant]
     Active Substance: DEXAMETHASONE
     Route: 065
     Dates: start: 20210323, end: 20210323
  689. DEXAMETHASONE [Concomitant]
     Active Substance: DEXAMETHASONE
     Route: 065
     Dates: start: 20210323, end: 20210323
  690. DEXAMETHASONE [Concomitant]
     Active Substance: DEXAMETHASONE
     Route: 065
     Dates: start: 20210323, end: 20210323
  691. DEXAMETHASONE [Concomitant]
     Active Substance: DEXAMETHASONE
     Route: 040
     Dates: start: 20210209, end: 20210209
  692. DEXAMETHASONE [Concomitant]
     Active Substance: DEXAMETHASONE
     Route: 042
     Dates: start: 20210119, end: 20210119
  693. DEXAMETHASONE [Concomitant]
     Active Substance: DEXAMETHASONE
     Route: 042
     Dates: start: 20210323, end: 20210323
  694. FILGRASTIM [Concomitant]
     Active Substance: FILGRASTIM
     Route: 065
     Dates: start: 20201220
  695. FILGRASTIM [Concomitant]
     Active Substance: FILGRASTIM
     Route: 065
     Dates: start: 20201129, end: 20201206
  696. FILGRASTIM [Concomitant]
     Active Substance: FILGRASTIM
     Route: 065
     Dates: start: 20201220
  697. FILGRASTIM [Concomitant]
     Active Substance: FILGRASTIM
     Route: 065
     Dates: start: 20201220
  698. FILGRASTIM [Concomitant]
     Active Substance: FILGRASTIM
     Route: 065
     Dates: start: 20201220
  699. FILGRASTIM [Concomitant]
     Active Substance: FILGRASTIM
     Route: 065
     Dates: start: 20201220
  700. FILGRASTIM [Concomitant]
     Active Substance: FILGRASTIM
     Route: 065
     Dates: start: 20201220
  701. FILGRASTIM [Concomitant]
     Active Substance: FILGRASTIM
     Route: 065
     Dates: start: 20201220
  702. FILGRASTIM [Concomitant]
     Active Substance: FILGRASTIM
     Route: 065
     Dates: start: 20201220
  703. FILGRASTIM [Concomitant]
     Active Substance: FILGRASTIM
     Route: 065
     Dates: start: 20201129, end: 20201206
  704. FILGRASTIM [Concomitant]
     Active Substance: FILGRASTIM
     Route: 065
     Dates: start: 20201129, end: 20201206
  705. FILGRASTIM [Concomitant]
     Active Substance: FILGRASTIM
     Route: 065
     Dates: start: 20201129, end: 20201206
  706. FILGRASTIM [Concomitant]
     Active Substance: FILGRASTIM
     Route: 065
     Dates: start: 20201129, end: 20201206
  707. FILGRASTIM [Concomitant]
     Active Substance: FILGRASTIM
     Route: 065
     Dates: start: 20201129, end: 20201206
  708. FILGRASTIM [Concomitant]
     Active Substance: FILGRASTIM
     Route: 065
     Dates: start: 20201129, end: 20201206
  709. FILGRASTIM [Concomitant]
     Active Substance: FILGRASTIM
     Route: 065
     Dates: start: 20201129, end: 20201206
  710. FILGRASTIM [Concomitant]
     Active Substance: FILGRASTIM
     Route: 065
     Dates: start: 20201129, end: 20201206
  711. FILGRASTIM [Concomitant]
     Active Substance: FILGRASTIM
     Route: 065
     Dates: start: 20201129, end: 20201206
  712. FILGRASTIM [Concomitant]
     Active Substance: FILGRASTIM
     Indication: Prophylaxis
     Route: 050
     Dates: start: 20201129, end: 20201206
  713. FILGRASTIM [Concomitant]
     Active Substance: FILGRASTIM
     Route: 065
     Dates: start: 20201129, end: 20201206
  714. FILGRASTIM [Concomitant]
     Active Substance: FILGRASTIM
     Route: 065
     Dates: start: 20201129, end: 20201206
  715. FILGRASTIM [Concomitant]
     Active Substance: FILGRASTIM
     Route: 065
     Dates: start: 20201129, end: 20201206
  716. FILGRASTIM [Concomitant]
     Active Substance: FILGRASTIM
     Route: 065
     Dates: start: 20201129, end: 20201206
  717. FILGRASTIM [Concomitant]
     Active Substance: FILGRASTIM
     Route: 065
     Dates: start: 20201129, end: 20201206
  718. FILGRASTIM [Concomitant]
     Active Substance: FILGRASTIM
     Route: 065
     Dates: start: 20201129, end: 20201206
  719. FILGRASTIM [Concomitant]
     Active Substance: FILGRASTIM
     Route: 065
     Dates: start: 20201129, end: 20201206
  720. FILGRASTIM [Concomitant]
     Active Substance: FILGRASTIM
     Indication: Prophylaxis
     Route: 050
     Dates: start: 20201220
  721. FILGRASTIM [Concomitant]
     Active Substance: FILGRASTIM
     Route: 065
     Dates: start: 20201129, end: 20201206
  722. FILGRASTIM [Concomitant]
     Active Substance: FILGRASTIM
     Route: 065
     Dates: start: 20201220
  723. FILGRASTIM [Concomitant]
     Active Substance: FILGRASTIM
     Route: 065
     Dates: start: 20201220
  724. OMEPRAZOLE [Concomitant]
     Active Substance: OMEPRAZOLE
     Route: 065
     Dates: start: 20201118
  725. OMEPRAZOLE [Concomitant]
     Active Substance: OMEPRAZOLE
     Route: 065
  726. OMEPRAZOLE [Concomitant]
     Active Substance: OMEPRAZOLE
     Route: 065
  727. OMEPRAZOLE [Concomitant]
     Active Substance: OMEPRAZOLE
     Route: 065
  728. OMEPRAZOLE [Concomitant]
     Active Substance: OMEPRAZOLE
     Route: 065
  729. OMEPRAZOLE [Concomitant]
     Active Substance: OMEPRAZOLE
     Route: 065
  730. OMEPRAZOLE [Concomitant]
     Active Substance: OMEPRAZOLE
     Route: 065
  731. OMEPRAZOLE [Concomitant]
     Active Substance: OMEPRAZOLE
     Route: 065
  732. OMEPRAZOLE [Concomitant]
     Active Substance: OMEPRAZOLE
     Route: 065
  733. OMEPRAZOLE [Concomitant]
     Active Substance: OMEPRAZOLE
     Route: 065
  734. OMEPRAZOLE [Concomitant]
     Active Substance: OMEPRAZOLE
     Route: 065
  735. OMEPRAZOLE [Concomitant]
     Active Substance: OMEPRAZOLE
     Route: 065
  736. OMEPRAZOLE [Concomitant]
     Active Substance: OMEPRAZOLE
     Route: 065
  737. OMEPRAZOLE [Concomitant]
     Active Substance: OMEPRAZOLE
     Route: 065
  738. OMEPRAZOLE [Concomitant]
     Active Substance: OMEPRAZOLE
     Route: 065
  739. OMEPRAZOLE [Concomitant]
     Active Substance: OMEPRAZOLE
     Route: 065
  740. OMEPRAZOLE [Concomitant]
     Active Substance: OMEPRAZOLE
     Indication: Gastrointestinal disorder prophylaxis
     Route: 050
     Dates: start: 20201118
  741. OMEPRAZOLE [Concomitant]
     Active Substance: OMEPRAZOLE
     Route: 065
     Dates: start: 20201118
  742. OMEPRAZOLE [Concomitant]
     Active Substance: OMEPRAZOLE
     Route: 065
     Dates: start: 20201118
  743. OMEPRAZOLE [Concomitant]
     Active Substance: OMEPRAZOLE
     Route: 065
  744. OMEPRAZOLE [Concomitant]
     Active Substance: OMEPRAZOLE
     Route: 065
  745. OMEPRAZOLE [Concomitant]
     Active Substance: OMEPRAZOLE
     Indication: Product used for unknown indication
     Route: 065
     Dates: start: 20201118
  746. OMEPRAZOLE [Concomitant]
     Active Substance: OMEPRAZOLE
     Indication: Gastrointestinal disorder prophylaxis
     Route: 065
  747. OMEPRAZOLE [Concomitant]
     Active Substance: OMEPRAZOLE
     Indication: Product used for unknown indication
     Route: 065
  748. OMEPRAZOLE [Concomitant]
     Active Substance: OMEPRAZOLE
     Route: 065
  749. OMEPRAZOLE [Concomitant]
     Active Substance: OMEPRAZOLE
     Route: 065
  750. OMEPRAZOLE [Concomitant]
     Active Substance: OMEPRAZOLE
     Route: 065
  751. OMEPRAZOLE [Concomitant]
     Active Substance: OMEPRAZOLE
     Route: 065
  752. OMEPRAZOLE [Concomitant]
     Active Substance: OMEPRAZOLE
     Route: 065
  753. OMEPRAZOLE [Concomitant]
     Active Substance: OMEPRAZOLE
     Route: 065
  754. OMEPRAZOLE [Concomitant]
     Active Substance: OMEPRAZOLE
     Route: 065
  755. OMEPRAZOLE [Concomitant]
     Active Substance: OMEPRAZOLE
     Route: 065
  756. OMEPRAZOLE [Concomitant]
     Active Substance: OMEPRAZOLE
     Route: 065
  757. OMEPRAZOLE [Concomitant]
     Active Substance: OMEPRAZOLE
     Route: 065
  758. OMEPRAZOLE [Concomitant]
     Active Substance: OMEPRAZOLE
     Route: 065
  759. OMEPRAZOLE [Concomitant]
     Active Substance: OMEPRAZOLE
     Route: 065
  760. OMEPRAZOLE [Concomitant]
     Active Substance: OMEPRAZOLE
     Route: 065
  761. OMEPRAZOLE [Concomitant]
     Active Substance: OMEPRAZOLE
     Route: 065
  762. OMEPRAZOLE [Concomitant]
     Active Substance: OMEPRAZOLE
     Route: 065
     Dates: start: 20201118
  763. OMEPRAZOLE [Concomitant]
     Active Substance: OMEPRAZOLE
     Route: 065
  764. ACETAMINOPHEN [Concomitant]
     Active Substance: ACETAMINOPHEN
     Route: 048
     Dates: start: 20210309, end: 20210309
  765. ACETAMINOPHEN [Concomitant]
     Active Substance: ACETAMINOPHEN
     Route: 065
     Dates: start: 20201123
  766. ACETAMINOPHEN [Concomitant]
     Active Substance: ACETAMINOPHEN
     Route: 065
     Dates: start: 20210126, end: 20210126
  767. ACETAMINOPHEN [Concomitant]
     Active Substance: ACETAMINOPHEN
     Route: 065
     Dates: start: 20210126, end: 20210126
  768. ACETAMINOPHEN [Concomitant]
     Active Substance: ACETAMINOPHEN
     Route: 048
     Dates: start: 20210216, end: 20210216
  769. ACETAMINOPHEN [Concomitant]
     Active Substance: ACETAMINOPHEN
     Route: 048
     Dates: start: 20201124, end: 20201124
  770. ACETAMINOPHEN [Concomitant]
     Active Substance: ACETAMINOPHEN
     Route: 065
     Dates: start: 20210126, end: 20210126
  771. ACETAMINOPHEN [Concomitant]
     Active Substance: ACETAMINOPHEN
     Route: 065
     Dates: start: 20210126, end: 20210126
  772. ACETAMINOPHEN [Concomitant]
     Active Substance: ACETAMINOPHEN
     Route: 065
     Dates: start: 20210323, end: 20210323
  773. ACETAMINOPHEN [Concomitant]
     Active Substance: ACETAMINOPHEN
     Route: 065
     Dates: start: 20210126, end: 20210126
  774. ACETAMINOPHEN [Concomitant]
     Active Substance: ACETAMINOPHEN
     Route: 065
     Dates: start: 20210216, end: 20210216
  775. ACETAMINOPHEN [Concomitant]
     Active Substance: ACETAMINOPHEN
     Route: 048
     Dates: start: 20210323, end: 20210323
  776. ACETAMINOPHEN [Concomitant]
     Active Substance: ACETAMINOPHEN
     Route: 065
     Dates: start: 20201124, end: 20201124
  777. ACETAMINOPHEN [Concomitant]
     Active Substance: ACETAMINOPHEN
     Route: 065
     Dates: start: 20210323, end: 20210323
  778. ACETAMINOPHEN [Concomitant]
     Active Substance: ACETAMINOPHEN
     Route: 048
     Dates: start: 20210209, end: 20210209
  779. ACETAMINOPHEN [Concomitant]
     Active Substance: ACETAMINOPHEN
     Route: 048
     Dates: start: 20210302, end: 20210302
  780. ACETAMINOPHEN [Concomitant]
     Active Substance: ACETAMINOPHEN
     Route: 065
     Dates: start: 20201215, end: 20201215
  781. ACETAMINOPHEN [Concomitant]
     Active Substance: ACETAMINOPHEN
     Route: 065
     Dates: start: 20210119, end: 20210119
  782. ACETAMINOPHEN [Concomitant]
     Active Substance: ACETAMINOPHEN
     Route: 065
     Dates: start: 20210323, end: 20210323
  783. ACETAMINOPHEN [Concomitant]
     Active Substance: ACETAMINOPHEN
     Route: 065
     Dates: start: 20210209, end: 20210209
  784. ACETAMINOPHEN [Concomitant]
     Active Substance: ACETAMINOPHEN
     Route: 065
     Dates: start: 20210126, end: 20210126
  785. ACETAMINOPHEN [Concomitant]
     Active Substance: ACETAMINOPHEN
     Route: 065
     Dates: start: 20210126, end: 20210126
  786. ACETAMINOPHEN [Concomitant]
     Active Substance: ACETAMINOPHEN
     Route: 048
     Dates: start: 20201215, end: 20201215
  787. ACETAMINOPHEN [Concomitant]
     Active Substance: ACETAMINOPHEN
     Route: 048
     Dates: start: 20210119, end: 20210119
  788. ACETAMINOPHEN [Concomitant]
     Active Substance: ACETAMINOPHEN
     Route: 048
     Dates: start: 20210209, end: 20210209
  789. ACETAMINOPHEN [Concomitant]
     Active Substance: ACETAMINOPHEN
     Route: 048
     Dates: start: 20210216, end: 20210216
  790. ACETAMINOPHEN [Concomitant]
     Active Substance: ACETAMINOPHEN
     Route: 048
     Dates: start: 20210302, end: 20210302
  791. ACETAMINOPHEN [Concomitant]
     Active Substance: ACETAMINOPHEN
     Route: 065
     Dates: start: 20210323, end: 20210323
  792. ACETAMINOPHEN [Concomitant]
     Active Substance: ACETAMINOPHEN
     Route: 065
     Dates: start: 20210309, end: 20210309
  793. ACETAMINOPHEN [Concomitant]
     Active Substance: ACETAMINOPHEN
     Route: 050
     Dates: start: 20210126, end: 20210126
  794. ACETAMINOPHEN [Concomitant]
     Active Substance: ACETAMINOPHEN
     Indication: Prophylaxis
     Route: 048
     Dates: start: 20201124, end: 20201124
  795. ACETAMINOPHEN [Concomitant]
     Active Substance: ACETAMINOPHEN
     Route: 048
     Dates: start: 20210126, end: 20210126
  796. ACETAMINOPHEN [Concomitant]
     Active Substance: ACETAMINOPHEN
     Route: 065
     Dates: start: 20210309, end: 20210309
  797. ACETAMINOPHEN [Concomitant]
     Active Substance: ACETAMINOPHEN
     Route: 048
     Dates: start: 20210126, end: 20210126
  798. ACETAMINOPHEN [Concomitant]
     Active Substance: ACETAMINOPHEN
     Route: 048
     Dates: start: 20201215, end: 20201215
  799. ACETAMINOPHEN [Concomitant]
     Active Substance: ACETAMINOPHEN
     Route: 048
     Dates: start: 20210119, end: 20210119
  800. ACETAMINOPHEN [Concomitant]
     Active Substance: ACETAMINOPHEN
     Route: 048
     Dates: start: 20210323, end: 20210323
  801. ACETAMINOPHEN [Concomitant]
     Active Substance: ACETAMINOPHEN
     Route: 050
     Dates: start: 20210209, end: 20210209
  802. ACETAMINOPHEN [Concomitant]
     Active Substance: ACETAMINOPHEN
     Route: 050
     Dates: start: 20210216, end: 20210216
  803. ACETAMINOPHEN [Concomitant]
     Active Substance: ACETAMINOPHEN
     Route: 050
     Dates: start: 20210302, end: 20210302
  804. ACETAMINOPHEN [Concomitant]
     Active Substance: ACETAMINOPHEN
     Route: 050
     Dates: start: 20210309, end: 20210309
  805. ACETAMINOPHEN [Concomitant]
     Active Substance: ACETAMINOPHEN
     Route: 065
     Dates: start: 20210309, end: 20210309
  806. ACETAMINOPHEN [Concomitant]
     Active Substance: ACETAMINOPHEN
     Route: 065
     Dates: start: 20210309, end: 20210309
  807. ACETAMINOPHEN [Concomitant]
     Active Substance: ACETAMINOPHEN
     Route: 065
     Dates: start: 20210309, end: 20210309
  808. ACETAMINOPHEN [Concomitant]
     Active Substance: ACETAMINOPHEN
     Route: 065
     Dates: start: 20210126, end: 20210126
  809. ACETAMINOPHEN [Concomitant]
     Active Substance: ACETAMINOPHEN
     Route: 065
     Dates: start: 20210126, end: 20210126
  810. ACETAMINOPHEN [Concomitant]
     Active Substance: ACETAMINOPHEN
     Route: 065
     Dates: start: 20210126, end: 20210126
  811. ACETAMINOPHEN [Concomitant]
     Active Substance: ACETAMINOPHEN
     Route: 065
     Dates: start: 20210126, end: 20210126
  812. ACETAMINOPHEN [Concomitant]
     Active Substance: ACETAMINOPHEN
     Route: 065
     Dates: start: 20210126, end: 20210126
  813. ACETAMINOPHEN [Concomitant]
     Active Substance: ACETAMINOPHEN
     Route: 065
     Dates: start: 20210126, end: 20210126
  814. ACETAMINOPHEN [Concomitant]
     Active Substance: ACETAMINOPHEN
     Route: 065
     Dates: start: 20210126, end: 20210126
  815. ACETAMINOPHEN [Concomitant]
     Active Substance: ACETAMINOPHEN
     Route: 048
     Dates: start: 20210123, end: 20210123
  816. ACETAMINOPHEN [Concomitant]
     Active Substance: ACETAMINOPHEN
     Route: 050
     Dates: start: 20210126, end: 20210126
  817. ACETAMINOPHEN [Concomitant]
     Active Substance: ACETAMINOPHEN
     Route: 050
     Dates: start: 20210126, end: 20210126
  818. ACETAMINOPHEN [Concomitant]
     Active Substance: ACETAMINOPHEN
     Route: 065
     Dates: start: 20201124, end: 20201124
  819. ACETAMINOPHEN [Concomitant]
     Active Substance: ACETAMINOPHEN
     Route: 065
     Dates: start: 20201124, end: 20201124
  820. ACETAMINOPHEN [Concomitant]
     Active Substance: ACETAMINOPHEN
     Route: 065
     Dates: start: 20201215, end: 20201215
  821. ACETAMINOPHEN [Concomitant]
     Active Substance: ACETAMINOPHEN
     Route: 065
     Dates: start: 20210119, end: 20210119
  822. ACETAMINOPHEN [Concomitant]
     Active Substance: ACETAMINOPHEN
     Route: 065
     Dates: start: 20210209, end: 20210209
  823. ACETAMINOPHEN [Concomitant]
     Active Substance: ACETAMINOPHEN
     Route: 065
     Dates: start: 20210209, end: 20210209
  824. ACETAMINOPHEN [Concomitant]
     Active Substance: ACETAMINOPHEN
     Route: 065
     Dates: start: 20210216, end: 20210216
  825. ACETAMINOPHEN [Concomitant]
     Active Substance: ACETAMINOPHEN
     Route: 065
     Dates: start: 20210302, end: 20210302
  826. ACETAMINOPHEN [Concomitant]
     Active Substance: ACETAMINOPHEN
     Route: 065
     Dates: start: 20210323, end: 20210323
  827. ACETAMINOPHEN [Concomitant]
     Active Substance: ACETAMINOPHEN
     Route: 065
     Dates: start: 20210323, end: 20210323
  828. ACETAMINOPHEN [Concomitant]
     Active Substance: ACETAMINOPHEN
     Route: 065
     Dates: start: 20210323, end: 20210323
  829. ACETAMINOPHEN [Concomitant]
     Active Substance: ACETAMINOPHEN
     Route: 065
     Dates: start: 20201124, end: 20201124
  830. ACETAMINOPHEN [Concomitant]
     Active Substance: ACETAMINOPHEN
     Route: 065
     Dates: start: 20201124, end: 20201124
  831. ACETAMINOPHEN [Concomitant]
     Active Substance: ACETAMINOPHEN
     Route: 065
     Dates: start: 20201124, end: 20201124
  832. ACETAMINOPHEN [Concomitant]
     Active Substance: ACETAMINOPHEN
     Route: 065
     Dates: start: 20201124, end: 20201124
  833. ACETAMINOPHEN [Concomitant]
     Active Substance: ACETAMINOPHEN
     Route: 065
     Dates: start: 20201215, end: 20201215
  834. ACETAMINOPHEN [Concomitant]
     Active Substance: ACETAMINOPHEN
     Route: 065
     Dates: start: 20201215, end: 20201215
  835. ACETAMINOPHEN [Concomitant]
     Active Substance: ACETAMINOPHEN
     Route: 065
     Dates: start: 20201215, end: 20201215
  836. ACETAMINOPHEN [Concomitant]
     Active Substance: ACETAMINOPHEN
     Route: 065
     Dates: start: 20201215, end: 20201215
  837. ACETAMINOPHEN [Concomitant]
     Active Substance: ACETAMINOPHEN
     Route: 065
     Dates: start: 20210119, end: 20210119
  838. ACETAMINOPHEN [Concomitant]
     Active Substance: ACETAMINOPHEN
     Route: 065
     Dates: start: 20210119, end: 20210119
  839. ACETAMINOPHEN [Concomitant]
     Active Substance: ACETAMINOPHEN
     Route: 065
     Dates: start: 20210119, end: 20210119
  840. ACETAMINOPHEN [Concomitant]
     Active Substance: ACETAMINOPHEN
     Route: 065
     Dates: start: 20210119, end: 20210119
  841. ACETAMINOPHEN [Concomitant]
     Active Substance: ACETAMINOPHEN
     Route: 065
     Dates: start: 20210126, end: 20210126
  842. ACETAMINOPHEN [Concomitant]
     Active Substance: ACETAMINOPHEN
     Route: 065
     Dates: start: 20210126, end: 20210126
  843. ACETAMINOPHEN [Concomitant]
     Active Substance: ACETAMINOPHEN
     Route: 065
     Dates: start: 20210126, end: 20210126
  844. ACETAMINOPHEN [Concomitant]
     Active Substance: ACETAMINOPHEN
     Route: 065
     Dates: start: 20210126, end: 20210126
  845. ACETAMINOPHEN [Concomitant]
     Active Substance: ACETAMINOPHEN
     Route: 065
     Dates: start: 20210126, end: 20210126
  846. ACETAMINOPHEN [Concomitant]
     Active Substance: ACETAMINOPHEN
     Route: 065
     Dates: start: 20210209, end: 20210209
  847. ACETAMINOPHEN [Concomitant]
     Active Substance: ACETAMINOPHEN
     Route: 065
     Dates: start: 20210209, end: 20210209
  848. ACETAMINOPHEN [Concomitant]
     Active Substance: ACETAMINOPHEN
     Route: 065
     Dates: start: 20210209, end: 20210209
  849. ACETAMINOPHEN [Concomitant]
     Active Substance: ACETAMINOPHEN
     Route: 065
     Dates: start: 20210209, end: 20210209
  850. ACETAMINOPHEN [Concomitant]
     Active Substance: ACETAMINOPHEN
     Route: 065
     Dates: start: 20210216, end: 20210216
  851. ACETAMINOPHEN [Concomitant]
     Active Substance: ACETAMINOPHEN
     Route: 065
     Dates: start: 20210216, end: 20210216
  852. ACETAMINOPHEN [Concomitant]
     Active Substance: ACETAMINOPHEN
     Route: 065
     Dates: start: 20210216, end: 20210216
  853. ACETAMINOPHEN [Concomitant]
     Active Substance: ACETAMINOPHEN
     Route: 065
     Dates: start: 20210302, end: 20210302
  854. ACETAMINOPHEN [Concomitant]
     Active Substance: ACETAMINOPHEN
     Route: 065
     Dates: start: 20210302, end: 20210302
  855. ACETAMINOPHEN [Concomitant]
     Active Substance: ACETAMINOPHEN
     Route: 065
     Dates: start: 20210302, end: 20210302
  856. ACETAMINOPHEN [Concomitant]
     Active Substance: ACETAMINOPHEN
     Route: 065
     Dates: start: 20210302, end: 20210302
  857. ACETAMINOPHEN [Concomitant]
     Active Substance: ACETAMINOPHEN
     Route: 065
     Dates: start: 20210309, end: 20210309
  858. ACETAMINOPHEN [Concomitant]
     Active Substance: ACETAMINOPHEN
     Route: 065
     Dates: start: 20210309, end: 20210309
  859. ACETAMINOPHEN [Concomitant]
     Active Substance: ACETAMINOPHEN
     Route: 065
     Dates: start: 20210323, end: 20210323
  860. ACETAMINOPHEN [Concomitant]
     Active Substance: ACETAMINOPHEN
     Route: 065
     Dates: start: 20210323, end: 20210323
  861. ACETAMINOPHEN [Concomitant]
     Active Substance: ACETAMINOPHEN
     Route: 065
     Dates: start: 20210323, end: 20210323
  862. ACETAMINOPHEN [Concomitant]
     Active Substance: ACETAMINOPHEN
     Route: 065
     Dates: start: 20210323, end: 20210323
  863. ACETAMINOPHEN [Concomitant]
     Active Substance: ACETAMINOPHEN
     Route: 065
     Dates: start: 20210309, end: 20210309
  864. ACETAMINOPHEN [Concomitant]
     Active Substance: ACETAMINOPHEN
     Route: 065
     Dates: start: 20210309, end: 20210309
  865. ACETAMINOPHEN [Concomitant]
     Active Substance: ACETAMINOPHEN
     Route: 065
     Dates: start: 20210309, end: 20210309
  866. ACETAMINOPHEN [Concomitant]
     Active Substance: ACETAMINOPHEN
     Route: 065
     Dates: start: 20210119, end: 20210119
  867. ACETAMINOPHEN [Concomitant]
     Active Substance: ACETAMINOPHEN
     Route: 065
     Dates: start: 20210216, end: 20210216
  868. ACETAMINOPHEN [Concomitant]
     Active Substance: ACETAMINOPHEN
     Route: 065
     Dates: start: 20210216, end: 20210216
  869. ACETAMINOPHEN [Concomitant]
     Active Substance: ACETAMINOPHEN
     Route: 065
     Dates: start: 20201123
  870. ACETAMINOPHEN [Concomitant]
     Active Substance: ACETAMINOPHEN
     Route: 050
     Dates: start: 20201123
  871. ACETAMINOPHEN [Concomitant]
     Active Substance: ACETAMINOPHEN
     Route: 065
     Dates: start: 20201123
  872. ACETAMINOPHEN [Concomitant]
     Active Substance: ACETAMINOPHEN
     Route: 065
     Dates: start: 20201123
  873. ACETAMINOPHEN [Concomitant]
     Active Substance: ACETAMINOPHEN
     Route: 065
     Dates: start: 20201123
  874. ACETAMINOPHEN [Concomitant]
     Active Substance: ACETAMINOPHEN
     Route: 065
     Dates: start: 20201123
  875. ACETAMINOPHEN [Concomitant]
     Active Substance: ACETAMINOPHEN
     Route: 065
     Dates: start: 20201123
  876. ACETAMINOPHEN [Concomitant]
     Active Substance: ACETAMINOPHEN
     Route: 065
     Dates: start: 20201123
  877. ACETAMINOPHEN [Concomitant]
     Active Substance: ACETAMINOPHEN
     Route: 065
     Dates: start: 20201215, end: 20201215
  878. ACETAMINOPHEN [Concomitant]
     Active Substance: ACETAMINOPHEN
     Route: 065
     Dates: start: 20210302, end: 20210302
  879. ACETAMINOPHEN [Concomitant]
     Active Substance: ACETAMINOPHEN
     Route: 065
     Dates: start: 20201123
  880. PREDNISOLONE [Concomitant]
     Active Substance: PREDNISOLONE
     Route: 048
     Dates: start: 20201124
  881. PREDNISOLONE [Concomitant]
     Active Substance: PREDNISOLONE
     Indication: Diffuse large B-cell lymphoma
     Route: 065
     Dates: start: 20201118, end: 20201122
  882. PREDNISOLONE [Concomitant]
     Active Substance: PREDNISOLONE
     Indication: Product used for unknown indication
     Route: 065
     Dates: start: 20201124
  883. PREDNISOLONE [Concomitant]
     Active Substance: PREDNISOLONE
     Route: 065
     Dates: start: 20201118, end: 20201122
  884. PREDNISOLONE [Concomitant]
     Active Substance: PREDNISOLONE
     Route: 065
     Dates: start: 20201118, end: 20201122
  885. PREDNISOLONE [Concomitant]
     Active Substance: PREDNISOLONE
     Route: 065
  886. PREDNISOLONE [Concomitant]
     Active Substance: PREDNISOLONE
     Route: 065
  887. PREDNISOLONE [Concomitant]
     Active Substance: PREDNISOLONE
     Route: 065
  888. SARS-CoV-2 vaccine [Concomitant]
     Indication: COVID-19 immunisation
     Route: 065
  889. SARS-CoV-2 vaccine [Concomitant]
     Route: 065
  890. SARS-CoV-2 vaccine [Concomitant]
     Route: 065
  891. SARS-CoV-2 vaccine [Concomitant]
     Indication: Product used for unknown indication
     Route: 065
     Dates: start: 20210428, end: 20210428
  892. SENNA [Concomitant]
     Active Substance: SENNOSIDES
     Route: 065
     Dates: start: 20201124
  893. SENNA [Concomitant]
     Active Substance: SENNOSIDES
     Route: 065
     Dates: start: 20201124
  894. SENNA [Concomitant]
     Active Substance: SENNOSIDES
     Route: 065
     Dates: start: 20201124
  895. SENNA [Concomitant]
     Active Substance: SENNOSIDES
     Route: 065
     Dates: start: 20201124
  896. SENNA [Concomitant]
     Active Substance: SENNOSIDES
     Route: 065
     Dates: start: 20201124
  897. SENNA [Concomitant]
     Active Substance: SENNOSIDES
     Route: 065
     Dates: start: 20201124
  898. SENNA [Concomitant]
     Active Substance: SENNOSIDES
     Route: 065
     Dates: start: 20201124
  899. SENNA [Concomitant]
     Active Substance: SENNOSIDES
     Route: 065
     Dates: start: 20201124
  900. SENNA [Concomitant]
     Active Substance: SENNOSIDES
     Route: 065
     Dates: start: 20201124
  901. SENNA [Concomitant]
     Active Substance: SENNOSIDES
     Route: 065
     Dates: start: 20201124
  902. SENNA [Concomitant]
     Active Substance: SENNOSIDES
     Route: 065
     Dates: start: 20201124
  903. SENNA [Concomitant]
     Active Substance: SENNOSIDES
     Route: 065
     Dates: start: 20201124
  904. SENNA [Concomitant]
     Active Substance: SENNOSIDES
     Route: 065
     Dates: start: 20201124
  905. SENNA [Concomitant]
     Active Substance: SENNOSIDES
     Route: 065
     Dates: start: 20201124
  906. SENNA [Concomitant]
     Active Substance: SENNOSIDES
     Route: 065
     Dates: start: 20201124
  907. SENNA [Concomitant]
     Active Substance: SENNOSIDES
     Route: 065
     Dates: start: 20201124
  908. SENNA [Concomitant]
     Active Substance: SENNOSIDES
     Route: 065
     Dates: start: 20201124
  909. SENNA [Concomitant]
     Active Substance: SENNOSIDES
     Route: 065
     Dates: start: 20201124
  910. SENNA [Concomitant]
     Active Substance: SENNOSIDES
     Route: 065
     Dates: start: 20201124
  911. SENNA [Concomitant]
     Active Substance: SENNOSIDES
     Route: 065
     Dates: start: 20201124
  912. SENNA [Concomitant]
     Active Substance: SENNOSIDES
     Route: 065
     Dates: start: 20201124
  913. SENNA [Concomitant]
     Active Substance: SENNOSIDES
     Route: 065
     Dates: start: 20201124
  914. SENNA [Concomitant]
     Active Substance: SENNOSIDES
     Route: 065
     Dates: start: 20201124
  915. SENNA [Concomitant]
     Active Substance: SENNOSIDES
     Route: 065
     Dates: start: 20201124
  916. SENNA [Concomitant]
     Active Substance: SENNOSIDES
     Route: 065
     Dates: start: 20201124
  917. SENNA [Concomitant]
     Active Substance: SENNOSIDES
     Route: 065
     Dates: start: 20201124
  918. SENNA [Concomitant]
     Active Substance: SENNOSIDES
     Route: 065
     Dates: start: 20201124
  919. SENNA [Concomitant]
     Active Substance: SENNOSIDES
     Route: 065
     Dates: start: 20201124
  920. SENNA [Concomitant]
     Active Substance: SENNOSIDES
     Route: 065
     Dates: start: 20201124
  921. SENNA [Concomitant]
     Active Substance: SENNOSIDES
     Route: 065
     Dates: start: 20201124
  922. SENNA [Concomitant]
     Active Substance: SENNOSIDES
     Route: 065
     Dates: start: 20201124
  923. SENNA [Concomitant]
     Active Substance: SENNOSIDES
     Route: 065
     Dates: start: 20201124
  924. SENNA [Concomitant]
     Active Substance: SENNOSIDES
     Route: 065
     Dates: start: 20201124
  925. SENNA [Concomitant]
     Active Substance: SENNOSIDES
     Route: 065
     Dates: start: 20201124
  926. SENNA [Concomitant]
     Active Substance: SENNOSIDES
     Route: 065
     Dates: start: 20201124
  927. SENNA [Concomitant]
     Active Substance: SENNOSIDES
     Route: 065
     Dates: start: 20201124
  928. SENNA [Concomitant]
     Active Substance: SENNOSIDES
     Route: 065
     Dates: start: 20201124
  929. SENNA [Concomitant]
     Active Substance: SENNOSIDES
     Route: 065
     Dates: start: 20201124
  930. SENNA [Concomitant]
     Active Substance: SENNOSIDES
     Route: 065
     Dates: start: 20201124
  931. SENNA [Concomitant]
     Active Substance: SENNOSIDES
     Route: 065
     Dates: start: 20201124
  932. SENNA [Concomitant]
     Active Substance: SENNOSIDES
     Route: 065
     Dates: start: 20201124
  933. SENNA [Concomitant]
     Active Substance: SENNOSIDES
     Route: 065
     Dates: start: 20201124
  934. SENNA [Concomitant]
     Active Substance: SENNOSIDES
     Route: 065
     Dates: start: 20201124
  935. SENNA [Concomitant]
     Active Substance: SENNOSIDES
     Route: 065
     Dates: start: 20201124
  936. SENNA [Concomitant]
     Active Substance: SENNOSIDES
     Route: 065
     Dates: start: 20201124
  937. SENNA [Concomitant]
     Active Substance: SENNOSIDES
     Route: 065
     Dates: start: 20201124
  938. SENNA [Concomitant]
     Active Substance: SENNOSIDES
     Route: 065
     Dates: start: 20201124
  939. SENNA [Concomitant]
     Active Substance: SENNOSIDES
     Route: 065
     Dates: start: 20201124
  940. SENNA [Concomitant]
     Active Substance: SENNOSIDES
     Route: 065
     Dates: start: 20201124
  941. SENNA [Concomitant]
     Active Substance: SENNOSIDES
     Route: 065
     Dates: start: 20201124
  942. SENNA [Concomitant]
     Active Substance: SENNOSIDES
     Route: 065
     Dates: start: 20201124
  943. SENNA [Concomitant]
     Active Substance: SENNOSIDES
     Route: 065
     Dates: start: 20201124
  944. SENNA [Concomitant]
     Active Substance: SENNOSIDES
     Route: 065
     Dates: start: 20201124
  945. SENNA [Concomitant]
     Active Substance: SENNOSIDES
     Route: 065
     Dates: start: 20201124
  946. SENNA [Concomitant]
     Active Substance: SENNOSIDES
     Route: 065
     Dates: start: 20201124
  947. SENNA [Concomitant]
     Active Substance: SENNOSIDES
     Route: 065
     Dates: start: 20201124
  948. SENNA [Concomitant]
     Active Substance: SENNOSIDES
     Route: 065
     Dates: start: 20201124
  949. SENNA [Concomitant]
     Active Substance: SENNOSIDES
     Route: 065
     Dates: start: 20201124
  950. SENNA [Concomitant]
     Active Substance: SENNOSIDES
     Route: 065
     Dates: start: 20201124
  951. SENNA [Concomitant]
     Active Substance: SENNOSIDES
     Route: 065
     Dates: start: 20201124
  952. SENNA [Concomitant]
     Active Substance: SENNOSIDES
     Route: 065
     Dates: start: 20201124
  953. SENNA [Concomitant]
     Active Substance: SENNOSIDES
     Route: 065
     Dates: start: 20201124
  954. SENNA [Concomitant]
     Active Substance: SENNOSIDES
     Route: 065
     Dates: start: 20201124
  955. SENNA [Concomitant]
     Active Substance: SENNOSIDES
     Route: 065
     Dates: start: 20201124
  956. SENNA [Concomitant]
     Active Substance: SENNOSIDES
     Route: 065
     Dates: start: 20201124
  957. SENNA [Concomitant]
     Active Substance: SENNOSIDES
     Route: 065
     Dates: start: 20201124
  958. SENNA [Concomitant]
     Active Substance: SENNOSIDES
     Route: 065
     Dates: start: 20201124
  959. SENNA [Concomitant]
     Active Substance: SENNOSIDES
     Route: 065
     Dates: start: 20201124
  960. SENNA [Concomitant]
     Active Substance: SENNOSIDES
     Route: 065
     Dates: start: 20201124
  961. SENNA [Concomitant]
     Active Substance: SENNOSIDES
     Route: 065
     Dates: start: 20201124
  962. SENNA [Concomitant]
     Active Substance: SENNOSIDES
     Route: 065
     Dates: start: 20201124
  963. SENNA [Concomitant]
     Active Substance: SENNOSIDES
     Route: 065
     Dates: start: 20201124
  964. SENNA [Concomitant]
     Active Substance: SENNOSIDES
     Route: 065
     Dates: start: 20201124
  965. SENNA [Concomitant]
     Active Substance: SENNOSIDES
     Route: 065
     Dates: start: 20201124
  966. SENNA [Concomitant]
     Active Substance: SENNOSIDES
     Route: 065
     Dates: start: 20201124
  967. SENNA [Concomitant]
     Active Substance: SENNOSIDES
     Route: 065
     Dates: start: 20201124
  968. SENNA [Concomitant]
     Active Substance: SENNOSIDES
     Indication: Constipation
     Route: 050
     Dates: start: 20201124
  969. SENNA [Concomitant]
     Active Substance: SENNOSIDES
     Route: 065
     Dates: start: 20201124
  970. SENNA [Concomitant]
     Active Substance: SENNOSIDES
     Route: 065
     Dates: start: 20201124
  971. SENNA [Concomitant]
     Active Substance: SENNOSIDES
     Route: 065
     Dates: start: 20201124
  972. SENNA [Concomitant]
     Active Substance: SENNOSIDES
     Route: 065
     Dates: start: 20201124
  973. SENNA [Concomitant]
     Active Substance: SENNOSIDES
     Route: 065
     Dates: start: 20201124
  974. SENNA [Concomitant]
     Active Substance: SENNOSIDES
     Route: 065
     Dates: start: 20201124
  975. SENNA [Concomitant]
     Active Substance: SENNOSIDES
     Route: 065
     Dates: start: 20201124
  976. SENNA [Concomitant]
     Active Substance: SENNOSIDES
     Route: 065
     Dates: start: 20201124
  977. SENNA [Concomitant]
     Active Substance: SENNOSIDES
     Route: 065
     Dates: start: 20201124
  978. SENNA [Concomitant]
     Active Substance: SENNOSIDES
     Route: 065
     Dates: start: 20201124
  979. SENNA [Concomitant]
     Active Substance: SENNOSIDES
     Route: 065
     Dates: start: 20201124
  980. SENNA [Concomitant]
     Active Substance: SENNOSIDES
     Route: 065
     Dates: start: 20201124
  981. SENNA [Concomitant]
     Active Substance: SENNOSIDES
     Route: 065
     Dates: start: 20201124
  982. SENNA [Concomitant]
     Active Substance: SENNOSIDES
     Route: 065
     Dates: start: 20201124
  983. SENNA [Concomitant]
     Active Substance: SENNOSIDES
     Route: 065
     Dates: start: 20201124
  984. SENNA [Concomitant]
     Active Substance: SENNOSIDES
     Route: 065
     Dates: start: 20201124
  985. SENNA [Concomitant]
     Active Substance: SENNOSIDES
     Route: 065
     Dates: start: 20201124
  986. SENNA [Concomitant]
     Active Substance: SENNOSIDES
     Route: 065
     Dates: start: 20201124
  987. SENNA [Concomitant]
     Active Substance: SENNOSIDES
     Route: 065
     Dates: start: 20201124
  988. SENNA [Concomitant]
     Active Substance: SENNOSIDES
     Route: 065
     Dates: start: 20201124
  989. SENNA [Concomitant]
     Active Substance: SENNOSIDES
     Route: 065
     Dates: start: 20201124
  990. SENNA [Concomitant]
     Active Substance: SENNOSIDES
     Route: 065
     Dates: start: 20201124
  991. SENNA [Concomitant]
     Active Substance: SENNOSIDES
     Route: 065
     Dates: start: 20201124
  992. SENNA [Concomitant]
     Active Substance: SENNOSIDES
     Route: 065
     Dates: start: 20201124
  993. SENNA [Concomitant]
     Active Substance: SENNOSIDES
     Route: 065
     Dates: start: 20201124
  994. SENNA [Concomitant]
     Active Substance: SENNOSIDES
     Route: 065
     Dates: start: 20201124
  995. SENNA [Concomitant]
     Active Substance: SENNOSIDES
     Route: 065
     Dates: start: 20201124
  996. SENNA [Concomitant]
     Active Substance: SENNOSIDES
     Route: 065
     Dates: start: 20201124
  997. SENNA [Concomitant]
     Active Substance: SENNOSIDES
     Route: 065
     Dates: start: 20201124
  998. SENNA [Concomitant]
     Active Substance: SENNOSIDES
     Route: 065
     Dates: start: 20201124
  999. SENNA [Concomitant]
     Active Substance: SENNOSIDES
     Route: 065
     Dates: start: 20201124
  1000. SENNA [Concomitant]
     Active Substance: SENNOSIDES
     Route: 065
     Dates: start: 20201124
  1001. SENNA [Concomitant]
     Active Substance: SENNOSIDES
     Route: 065
     Dates: start: 20201124
  1002. SENNA [Concomitant]
     Active Substance: SENNOSIDES
     Route: 065
     Dates: start: 20201124
  1003. SENNA [Concomitant]
     Active Substance: SENNOSIDES
     Route: 065
     Dates: start: 20201124
  1004. SENNA [Concomitant]
     Active Substance: SENNOSIDES
     Route: 065
     Dates: start: 20201124
  1005. SENNA [Concomitant]
     Active Substance: SENNOSIDES
     Route: 065
     Dates: start: 20201124
  1006. SENNA [Concomitant]
     Active Substance: SENNOSIDES
     Route: 065
     Dates: start: 20201124
  1007. SENNA [Concomitant]
     Active Substance: SENNOSIDES
     Route: 065
     Dates: start: 20201124
  1008. SENNA [Concomitant]
     Active Substance: SENNOSIDES
     Route: 065
     Dates: start: 20201124
  1009. SENNA [Concomitant]
     Active Substance: SENNOSIDES
     Route: 065
     Dates: start: 20201124
  1010. SENNA [Concomitant]
     Active Substance: SENNOSIDES
     Route: 065
     Dates: start: 20201124
  1011. SENNA [Concomitant]
     Active Substance: SENNOSIDES
     Route: 065
     Dates: start: 20201124
  1012. SENNA [Concomitant]
     Active Substance: SENNOSIDES
     Route: 065
     Dates: start: 20201124
  1013. SENNA [Concomitant]
     Active Substance: SENNOSIDES
     Route: 065
     Dates: start: 20201124
  1014. SENNA [Concomitant]
     Active Substance: SENNOSIDES
     Route: 065
     Dates: start: 20201124
  1015. SENNA [Concomitant]
     Active Substance: SENNOSIDES
     Route: 065
     Dates: start: 20201124
  1016. SENNA [Concomitant]
     Active Substance: SENNOSIDES
     Route: 065
     Dates: start: 20201124
  1017. SENNA [Concomitant]
     Active Substance: SENNOSIDES
     Route: 065
     Dates: start: 20201124
  1018. SENOKOT [Concomitant]
     Active Substance: SENNOSIDES
     Route: 065
  1019. SENOKOT [Concomitant]
     Active Substance: SENNOSIDES
     Route: 065
  1020. SENOKOT [Concomitant]
     Active Substance: SENNOSIDES
     Route: 065
  1021. SENOKOT [Concomitant]
     Active Substance: SENNOSIDES
     Route: 065
  1022. SENOKOT [Concomitant]
     Active Substance: SENNOSIDES
     Route: 065
  1023. SENOKOT [Concomitant]
     Active Substance: SENNOSIDES
     Route: 065
  1024. SENOKOT [Concomitant]
     Active Substance: SENNOSIDES
     Route: 065
  1025. SENOKOT [Concomitant]
     Active Substance: SENNOSIDES
     Route: 065
  1026. SENOKOT [Concomitant]
     Active Substance: SENNOSIDES
     Route: 065
  1027. SENOKOT [Concomitant]
     Active Substance: SENNOSIDES
     Route: 065
  1028. SENOKOT [Concomitant]
     Active Substance: SENNOSIDES
     Route: 065
  1029. SENOKOT [Concomitant]
     Active Substance: SENNOSIDES
     Route: 065
  1030. SENOKOT [Concomitant]
     Active Substance: SENNOSIDES
     Route: 065
  1031. SENOKOT [Concomitant]
     Active Substance: SENNOSIDES
     Indication: Constipation
     Route: 065
  1032. SENOKOT [Concomitant]
     Active Substance: SENNOSIDES
     Route: 065
     Dates: start: 20201124
  1033. SENOKOT [Concomitant]
     Active Substance: SENNOSIDES
     Route: 065
  1034. SENOKOT [Concomitant]
     Active Substance: SENNOSIDES
     Route: 050
     Dates: start: 20201124
  1035. SENOKOT [Concomitant]
     Active Substance: SENNOSIDES
     Route: 065
     Dates: start: 20201124
  1036. SENOKOT [Concomitant]
     Active Substance: SENNOSIDES
     Route: 065
     Dates: start: 20201124
  1037. SENOKOT [Concomitant]
     Active Substance: SENNOSIDES
     Route: 065
     Dates: start: 20201124
  1038. SENOKOT [Concomitant]
     Active Substance: SENNOSIDES
     Route: 065
     Dates: start: 20201124
  1039. SENOKOT [Concomitant]
     Active Substance: SENNOSIDES
     Route: 065
     Dates: start: 20201124
  1040. SENOKOT [Concomitant]
     Active Substance: SENNOSIDES
     Route: 065
     Dates: start: 20201124
  1041. SENOKOT [Concomitant]
     Active Substance: SENNOSIDES
     Route: 065
     Dates: start: 20201124
  1042. SENOKOT [Concomitant]
     Active Substance: SENNOSIDES
     Route: 065
     Dates: start: 20201124
  1043. SENOKOT [Concomitant]
     Active Substance: SENNOSIDES
     Route: 065
     Dates: start: 20201124
  1044. SENOKOT [Concomitant]
     Active Substance: SENNOSIDES
     Route: 065
  1045. SENOKOT [Concomitant]
     Active Substance: SENNOSIDES
     Route: 065
  1046. SENOKOT [Concomitant]
     Active Substance: SENNOSIDES
     Route: 065
     Dates: start: 20201124
  1047. SENOKOT [Concomitant]
     Active Substance: SENNOSIDES
     Route: 065
     Dates: start: 20201124
  1048. SENOKOT [Concomitant]
     Active Substance: SENNOSIDES
     Route: 065
     Dates: start: 20201124
  1049. SENOKOT [Concomitant]
     Active Substance: SENNOSIDES
     Route: 065
     Dates: start: 20201124
  1050. SENOKOT [Concomitant]
     Active Substance: SENNOSIDES
     Route: 065
     Dates: start: 20201124
  1051. SENOKOT [Concomitant]
     Active Substance: SENNOSIDES
     Route: 065
     Dates: start: 20201124
  1052. SENOKOT [Concomitant]
     Active Substance: SENNOSIDES
     Route: 065
     Dates: start: 20201124
  1053. SENOKOT [Concomitant]
     Active Substance: SENNOSIDES
     Route: 065
     Dates: start: 20201124
  1054. SENOKOT [Concomitant]
     Active Substance: SENNOSIDES
     Route: 065
     Dates: start: 20201124
  1055. SENOKOT [Concomitant]
     Active Substance: SENNOSIDES
     Route: 065
     Dates: start: 20201124
  1056. SENOKOT [Concomitant]
     Active Substance: SENNOSIDES
     Route: 065
     Dates: start: 20201124
  1057. SENOKOT [Concomitant]
     Active Substance: SENNOSIDES
     Route: 065
     Dates: start: 20201124
  1058. SENOKOT [Concomitant]
     Active Substance: SENNOSIDES
     Route: 065
     Dates: start: 20201124
  1059. SENOKOT [Concomitant]
     Active Substance: SENNOSIDES
     Route: 065
     Dates: start: 20201124
  1060. SENOKOT [Concomitant]
     Active Substance: SENNOSIDES
     Route: 065
     Dates: start: 20201124
  1061. SENOKOT [Concomitant]
     Active Substance: SENNOSIDES
     Route: 065
     Dates: start: 20201124
  1062. SENOKOT [Concomitant]
     Active Substance: SENNOSIDES
     Route: 065
     Dates: start: 20201124
  1063. SENOKOT [Concomitant]
     Active Substance: SENNOSIDES
     Route: 065
     Dates: start: 20201124
  1064. SENOKOT [Concomitant]
     Active Substance: SENNOSIDES
     Route: 065
     Dates: start: 20201124
  1065. SENOKOT [Concomitant]
     Active Substance: SENNOSIDES
     Route: 065
     Dates: start: 20201124
  1066. SENOKOT [Concomitant]
     Active Substance: SENNOSIDES
     Route: 065
     Dates: start: 20201124
  1067. SENOKOT [Concomitant]
     Active Substance: SENNOSIDES
     Route: 065
     Dates: start: 20201124
  1068. SENOKOT [Concomitant]
     Active Substance: SENNOSIDES
     Route: 065
  1069. SENOKOT [Concomitant]
     Active Substance: SENNOSIDES
     Route: 065
  1070. SENOKOT [Concomitant]
     Active Substance: SENNOSIDES
     Route: 065
  1071. SENOKOT [Concomitant]
     Active Substance: SENNOSIDES
     Route: 065
  1072. SENOKOT [Concomitant]
     Active Substance: SENNOSIDES
     Route: 065
  1073. SENOKOT [Concomitant]
     Active Substance: SENNOSIDES
     Route: 065
  1074. SENOKOT [Concomitant]
     Active Substance: SENNOSIDES
     Route: 065
  1075. SENOKOT [Concomitant]
     Active Substance: SENNOSIDES
     Route: 065
  1076. SENOKOT [Concomitant]
     Active Substance: SENNOSIDES
     Route: 065
  1077. SENOKOT [Concomitant]
     Active Substance: SENNOSIDES
     Route: 050
     Dates: start: 20201124
  1078. SENOKOT [Concomitant]
     Active Substance: SENNOSIDES
     Route: 065
  1079. SENOKOT [Concomitant]
     Active Substance: SENNOSIDES
     Route: 065
  1080. SENOKOT [Concomitant]
     Active Substance: SENNOSIDES
     Route: 065

REACTIONS (10)
  - Death [Fatal]
  - Neutropenia [Recovered/Resolved]
  - Neutropenia [Recovered/Resolved]
  - Neutropenia [Recovered/Resolved]
  - Neutropenia [Recovered/Resolved]
  - Product use in unapproved indication [Unknown]
  - Off label use [Unknown]
  - Product use issue [Unknown]
  - Overdose [Unknown]
  - Underdose [Unknown]
